FAERS Safety Report 22860650 (Version 34)
Quarter: 2025Q3

REPORT INFORMATION
  Report Type: Report from Study
  Country: CA (occurrence: CA)
  Receive Date: 20230824
  Receipt Date: 20250711
  Transmission Date: 20251021
  Serious: Yes (Death, Other)
  Sender: BRISTOL-MYERS SQUIBB COMPANY
  Company Number: CA-BRISTOL-MYERS SQUIBB COMPANY-2023-118555

PATIENT
  Age: 40 Year
  Sex: Female
  Weight: 96 kg

DRUGS (976)
  1. ORENCIA [Suspect]
     Active Substance: ABATACEPT
     Indication: Rheumatoid arthritis
     Route: 042
  2. ORENCIA [Suspect]
     Active Substance: ABATACEPT
     Route: 042
  3. ORENCIA [Suspect]
     Active Substance: ABATACEPT
     Route: 042
  4. ORENCIA [Suspect]
     Active Substance: ABATACEPT
     Route: 042
  5. ORENCIA [Suspect]
     Active Substance: ABATACEPT
     Route: 042
  6. ORENCIA [Suspect]
     Active Substance: ABATACEPT
     Route: 040
  7. ORENCIA [Suspect]
     Active Substance: ABATACEPT
     Route: 042
  8. ORENCIA [Suspect]
     Active Substance: ABATACEPT
     Route: 042
  9. ORENCIA [Suspect]
     Active Substance: ABATACEPT
     Route: 042
  10. ORENCIA [Suspect]
     Active Substance: ABATACEPT
     Route: 041
  11. ORENCIA [Suspect]
     Active Substance: ABATACEPT
     Route: 042
  12. ORENCIA [Suspect]
     Active Substance: ABATACEPT
     Route: 042
  13. ORENCIA [Suspect]
     Active Substance: ABATACEPT
     Route: 040
  14. TRIAMCINOLONE ACETONIDE [Suspect]
     Active Substance: TRIAMCINOLONE ACETONIDE
     Indication: Rheumatoid arthritis
     Route: 014
  15. TRIAMCINOLONE ACETONIDE [Suspect]
     Active Substance: TRIAMCINOLONE ACETONIDE
  16. TRIAMCINOLONE ACETONIDE [Suspect]
     Active Substance: TRIAMCINOLONE ACETONIDE
  17. TRIAMCINOLONE ACETONIDE [Suspect]
     Active Substance: TRIAMCINOLONE ACETONIDE
     Route: 014
  18. TRIAMCINOLONE ACETONIDE [Suspect]
     Active Substance: TRIAMCINOLONE ACETONIDE
     Dosage: SUSPENSION INTRA ARTICULAR DOSAGE FORM
     Route: 014
  19. TRIAMCINOLONE ACETONIDE [Suspect]
     Active Substance: TRIAMCINOLONE ACETONIDE
     Route: 014
  20. TRIAMCINOLONE ACETONIDE [Suspect]
     Active Substance: TRIAMCINOLONE ACETONIDE
     Route: 014
  21. TRIAMCINOLONE ACETONIDE [Suspect]
     Active Substance: TRIAMCINOLONE ACETONIDE
     Dosage: SUSPENSION INTRA ARTICULAR DOSAGE FORM
     Route: 014
  22. TRIAMCINOLONE ACETONIDE [Suspect]
     Active Substance: TRIAMCINOLONE ACETONIDE
     Route: 014
  23. TRIAMCINOLONE ACETONIDE [Suspect]
     Active Substance: TRIAMCINOLONE ACETONIDE
     Dosage: SUSPENSION INTRA ARTICULAR DOSAGE FORM
     Route: 014
  24. TRIAMCINOLONE ACETONIDE [Suspect]
     Active Substance: TRIAMCINOLONE ACETONIDE
     Dosage: SUSPENSION INTRA ARTICULAR DOSAGE FORM
     Route: 014
  25. TRIAMCINOLONE ACETONIDE [Suspect]
     Active Substance: TRIAMCINOLONE ACETONIDE
     Dosage: SUSPENSION INTRA ARTICULAR DOSAGE FORM
     Route: 014
  26. TRIAMCINOLONE ACETONIDE [Suspect]
     Active Substance: TRIAMCINOLONE ACETONIDE
     Dosage: SUSPENSION INTRA ARTICULAR DOSAGE FORM
     Route: 014
  27. ORENCIA [Suspect]
     Active Substance: ABATACEPT
     Indication: Rheumatoid arthritis
  28. ORENCIA [Suspect]
     Active Substance: ABATACEPT
  29. ORENCIA [Suspect]
     Active Substance: ABATACEPT
  30. ORENCIA [Suspect]
     Active Substance: ABATACEPT
  31. ORENCIA [Suspect]
     Active Substance: ABATACEPT
  32. ORENCIA [Suspect]
     Active Substance: ABATACEPT
  33. ORENCIA [Suspect]
     Active Substance: ABATACEPT
     Indication: Rheumatoid arthritis
     Route: 058
  34. ORENCIA [Suspect]
     Active Substance: ABATACEPT
     Route: 058
  35. ORENCIA [Suspect]
     Active Substance: ABATACEPT
     Route: 058
  36. ORENCIA [Suspect]
     Active Substance: ABATACEPT
     Route: 058
  37. ORENCIA [Suspect]
     Active Substance: ABATACEPT
     Route: 058
  38. ORENCIA [Suspect]
     Active Substance: ABATACEPT
  39. ORENCIA [Suspect]
     Active Substance: ABATACEPT
  40. ORENCIA [Suspect]
     Active Substance: ABATACEPT
  41. ORENCIA [Suspect]
     Active Substance: ABATACEPT
  42. ORENCIA [Suspect]
     Active Substance: ABATACEPT
  43. ORENCIA [Suspect]
     Active Substance: ABATACEPT
     Route: 042
  44. ORENCIA [Suspect]
     Active Substance: ABATACEPT
     Route: 058
  45. ORENCIA [Suspect]
     Active Substance: ABATACEPT
     Route: 058
  46. ORENCIA [Suspect]
     Active Substance: ABATACEPT
     Route: 058
  47. ORENCIA [Suspect]
     Active Substance: ABATACEPT
     Route: 058
  48. ORENCIA [Suspect]
     Active Substance: ABATACEPT
     Route: 058
  49. MAGNESIUM CARBONATE [Concomitant]
     Active Substance: MAGNESIUM CARBONATE
     Indication: Migraine
  50. MAGNESIUM CARBONATE [Concomitant]
     Active Substance: MAGNESIUM CARBONATE
     Route: 042
  51. FLUTICASONE PROPIONATE [Concomitant]
     Active Substance: FLUTICASONE PROPIONATE
     Indication: Product used for unknown indication
  52. ACETAMINOPHEN [Concomitant]
     Active Substance: ACETAMINOPHEN
     Indication: Rheumatoid arthritis
  53. ACETAMINOPHEN [Concomitant]
     Active Substance: ACETAMINOPHEN
     Indication: Pyrexia
  54. ACETAMINOPHEN [Concomitant]
     Active Substance: ACETAMINOPHEN
     Indication: Pain
  55. ACETAMINOPHEN [Concomitant]
     Active Substance: ACETAMINOPHEN
  56. ACETAMINOPHEN AND CODEINE [Concomitant]
     Active Substance: ACETAMINOPHEN\CODEINE PHOSPHATE
     Indication: Rheumatoid arthritis
  57. ACETAMINOPHEN AND CODEINE [Concomitant]
     Active Substance: ACETAMINOPHEN\CODEINE PHOSPHATE
  58. ACTEMRA [Concomitant]
     Active Substance: TOCILIZUMAB
     Indication: Rheumatoid arthritis
     Route: 058
  59. ACTEMRA [Concomitant]
     Active Substance: TOCILIZUMAB
     Route: 042
  60. ACTEMRA [Concomitant]
     Active Substance: TOCILIZUMAB
     Route: 042
  61. ACTEMRA [Concomitant]
     Active Substance: TOCILIZUMAB
     Route: 042
  62. ACTEMRA [Concomitant]
     Active Substance: TOCILIZUMAB
     Route: 042
  63. ACTEMRA [Concomitant]
     Active Substance: TOCILIZUMAB
  64. ACTEMRA [Concomitant]
     Active Substance: TOCILIZUMAB
     Route: 058
  65. ACTEMRA [Concomitant]
     Active Substance: TOCILIZUMAB
     Route: 016
  66. ACTEMRA [Concomitant]
     Active Substance: TOCILIZUMAB
     Route: 058
  67. ACTEMRA [Concomitant]
     Active Substance: TOCILIZUMAB
     Route: 058
  68. ACTEMRA [Concomitant]
     Active Substance: TOCILIZUMAB
     Route: 058
  69. ACTEMRA [Concomitant]
     Active Substance: TOCILIZUMAB
     Route: 058
  70. ACTEMRA [Concomitant]
     Active Substance: TOCILIZUMAB
  71. ACTEMRA [Concomitant]
     Active Substance: TOCILIZUMAB
  72. ACTEMRA [Concomitant]
     Active Substance: TOCILIZUMAB
  73. ACTEMRA [Concomitant]
     Active Substance: TOCILIZUMAB
     Route: 042
  74. ACTEMRA [Concomitant]
     Active Substance: TOCILIZUMAB
     Route: 061
  75. ACTEMRA [Concomitant]
     Active Substance: TOCILIZUMAB
     Route: 058
  76. ACTEMRA [Concomitant]
     Active Substance: TOCILIZUMAB
     Route: 042
  77. ACTEMRA [Concomitant]
     Active Substance: TOCILIZUMAB
     Route: 017
  78. ACTEMRA [Concomitant]
     Active Substance: TOCILIZUMAB
     Route: 058
  79. ACTEMRA [Concomitant]
     Active Substance: TOCILIZUMAB
     Route: 042
  80. ACTEMRA [Concomitant]
     Active Substance: TOCILIZUMAB
     Route: 058
  81. ACTEMRA [Concomitant]
     Active Substance: TOCILIZUMAB
     Route: 058
  82. ACTEMRA [Concomitant]
     Active Substance: TOCILIZUMAB
     Route: 061
  83. ACTEMRA [Concomitant]
     Active Substance: TOCILIZUMAB
  84. ACTEMRA [Concomitant]
     Active Substance: TOCILIZUMAB
     Route: 058
  85. ACTEMRA [Concomitant]
     Active Substance: TOCILIZUMAB
     Route: 042
  86. ACTEMRA [Concomitant]
     Active Substance: TOCILIZUMAB
     Route: 058
  87. ACTEMRA [Concomitant]
     Active Substance: TOCILIZUMAB
     Route: 058
  88. ACTEMRA [Concomitant]
     Active Substance: TOCILIZUMAB
     Route: 058
  89. ACTEMRA [Concomitant]
     Active Substance: TOCILIZUMAB
  90. ACTEMRA [Concomitant]
     Active Substance: TOCILIZUMAB
     Route: 058
  91. ACTEMRA [Concomitant]
     Active Substance: TOCILIZUMAB
  92. ACTEMRA [Concomitant]
     Active Substance: TOCILIZUMAB
     Route: 042
  93. ACTEMRA [Concomitant]
     Active Substance: TOCILIZUMAB
     Route: 042
  94. ACTEMRA [Concomitant]
     Active Substance: TOCILIZUMAB
     Route: 042
  95. ACTEMRA [Concomitant]
     Active Substance: TOCILIZUMAB
     Route: 042
  96. ACTEMRA [Concomitant]
     Active Substance: TOCILIZUMAB
  97. ACTEMRA [Concomitant]
     Active Substance: TOCILIZUMAB
  98. ACTEMRA [Concomitant]
     Active Substance: TOCILIZUMAB
  99. ACTEMRA [Concomitant]
     Active Substance: TOCILIZUMAB
  100. ACTEMRA [Concomitant]
     Active Substance: TOCILIZUMAB
     Route: 042
  101. ADALIMUMAB [Concomitant]
     Active Substance: ADALIMUMAB
     Indication: Rheumatoid arthritis
     Dosage: SOLUTION SUBCUTANEOUS
     Route: 058
  102. ADALIMUMAB [Concomitant]
     Active Substance: ADALIMUMAB
     Indication: Psoriatic arthropathy
     Route: 058
  103. ADALIMUMAB [Concomitant]
     Active Substance: ADALIMUMAB
     Route: 058
  104. ADALIMUMAB [Concomitant]
     Active Substance: ADALIMUMAB
     Route: 058
  105. ADALIMUMAB [Concomitant]
     Active Substance: ADALIMUMAB
     Dosage: SOLUTION SUBCUTANEOUS
     Route: 058
  106. ADALIMUMAB [Concomitant]
     Active Substance: ADALIMUMAB
     Route: 048
  107. AIMOVIG [Concomitant]
     Active Substance: ERENUMAB-AOOE
     Indication: Migraine
  108. AIMOVIG [Concomitant]
     Active Substance: ERENUMAB-AOOE
     Indication: Rheumatoid arthritis
  109. ALENDRONIC ACID [Concomitant]
     Active Substance: ALENDRONIC ACID
     Indication: Rheumatoid arthritis
  110. ALENDRONIC ACID [Concomitant]
     Active Substance: ALENDRONIC ACID
     Route: 048
  111. ALENDRONIC ACID [Concomitant]
     Active Substance: ALENDRONIC ACID
  112. ALENDRONIC ACID [Concomitant]
     Active Substance: ALENDRONIC ACID
     Route: 048
  113. LEFLUNOMIDE [Concomitant]
     Active Substance: LEFLUNOMIDE
     Indication: Rheumatoid arthritis
     Route: 048
  114. LEFLUNOMIDE [Concomitant]
     Active Substance: LEFLUNOMIDE
  115. LEFLUNOMIDE [Concomitant]
     Active Substance: LEFLUNOMIDE
  116. LEFLUNOMIDE [Concomitant]
     Active Substance: LEFLUNOMIDE
  117. LEFLUNOMIDE [Concomitant]
     Active Substance: LEFLUNOMIDE
     Route: 048
  118. LEFLUNOMIDE [Concomitant]
     Active Substance: LEFLUNOMIDE
  119. LEFLUNOMIDE [Concomitant]
     Active Substance: LEFLUNOMIDE
     Route: 048
  120. PREDNISONE [Concomitant]
     Active Substance: PREDNISONE
     Indication: Rheumatoid arthritis
     Route: 048
  121. PREDNISONE [Concomitant]
     Active Substance: PREDNISONE
  122. PREDNISONE [Concomitant]
     Active Substance: PREDNISONE
     Route: 048
  123. PREDNISONE [Concomitant]
     Active Substance: PREDNISONE
  124. PREDNISONE [Concomitant]
     Active Substance: PREDNISONE
     Route: 048
  125. PREDNISONE [Concomitant]
     Active Substance: PREDNISONE
     Route: 048
  126. PREDNISONE [Concomitant]
     Active Substance: PREDNISONE
  127. PREDNISONE [Concomitant]
     Active Substance: PREDNISONE
     Route: 048
  128. PREDNISONE [Concomitant]
     Active Substance: PREDNISONE
  129. PREDNISONE [Concomitant]
     Active Substance: PREDNISONE
  130. PREDNISONE [Concomitant]
     Active Substance: PREDNISONE
     Route: 048
  131. PREDNISONE [Concomitant]
     Active Substance: PREDNISONE
  132. PREDNISONE [Concomitant]
     Active Substance: PREDNISONE
     Route: 048
  133. PREDNISONE [Concomitant]
     Active Substance: PREDNISONE
  134. PREDNISONE [Concomitant]
     Active Substance: PREDNISONE
     Route: 048
  135. PREDNISONE [Concomitant]
     Active Substance: PREDNISONE
     Route: 048
  136. PREDNISONE [Concomitant]
     Active Substance: PREDNISONE
  137. PREDNISONE [Concomitant]
     Active Substance: PREDNISONE
     Route: 048
  138. APREMILAST [Concomitant]
     Active Substance: APREMILAST
     Indication: Rheumatoid arthritis
  139. APREMILAST [Concomitant]
     Active Substance: APREMILAST
  140. APREMILAST [Concomitant]
     Active Substance: APREMILAST
  141. APREMILAST [Concomitant]
     Active Substance: APREMILAST
  142. APREMILAST [Concomitant]
     Active Substance: APREMILAST
  143. ARAVA [Concomitant]
     Active Substance: LEFLUNOMIDE
     Indication: Rheumatoid arthritis
     Route: 048
  144. ARAVA [Concomitant]
     Active Substance: LEFLUNOMIDE
     Route: 048
  145. ARAVA [Concomitant]
     Active Substance: LEFLUNOMIDE
  146. ARAVA [Concomitant]
     Active Substance: LEFLUNOMIDE
     Route: 048
  147. ARAVA [Concomitant]
     Active Substance: LEFLUNOMIDE
     Route: 048
  148. ARAVA [Concomitant]
     Active Substance: LEFLUNOMIDE
     Route: 048
  149. ARAVA [Concomitant]
     Active Substance: LEFLUNOMIDE
     Route: 048
  150. ARAVA [Concomitant]
     Active Substance: LEFLUNOMIDE
     Route: 005
  151. ARAVA [Concomitant]
     Active Substance: LEFLUNOMIDE
  152. ATOMOXETINE [Concomitant]
     Active Substance: ATOMOXETINE
     Indication: Migraine
  153. ATOMOXETINE [Concomitant]
     Active Substance: ATOMOXETINE
  154. ATOMOXETINE [Concomitant]
     Active Substance: ATOMOXETINE
  155. ATOMOXETINE [Concomitant]
     Active Substance: ATOMOXETINE
  156. ATOMOXETINE [Concomitant]
     Active Substance: ATOMOXETINE
  157. AZATHIOPRINE SODIUM [Concomitant]
     Active Substance: AZATHIOPRINE SODIUM
     Indication: Rheumatoid arthritis
  158. AZATHIOPRINE SODIUM [Concomitant]
     Active Substance: AZATHIOPRINE SODIUM
  159. BERINERT [Concomitant]
     Active Substance: HUMAN C1-ESTERASE INHIBITOR
     Indication: Product used for unknown indication
  160. BOTULINUM TOXIN TYPE A [Concomitant]
     Active Substance: BOTULINUM TOXIN TYPE A
     Indication: Product used for unknown indication
     Route: 030
  161. BOTULINUM TOXIN TYPE A [Concomitant]
     Active Substance: BOTULINUM TOXIN TYPE A
     Dosage: POWDER FOR SOLUTION
  162. BUTRANS [Concomitant]
     Active Substance: BUPRENORPHINE
     Indication: Product used for unknown indication
  163. BUTRANS [Concomitant]
     Active Substance: BUPRENORPHINE
  164. CANDESARTAN [Concomitant]
     Active Substance: CANDESARTAN
     Indication: Migraine
     Route: 048
  165. CANDESARTAN [Concomitant]
     Active Substance: CANDESARTAN
     Indication: Rheumatoid arthritis
     Route: 048
  166. CANDESARTAN [Concomitant]
     Active Substance: CANDESARTAN
  167. CELEBREX [Concomitant]
     Active Substance: CELECOXIB
     Indication: Rheumatoid arthritis
     Route: 048
  168. CELEBREX [Concomitant]
     Active Substance: CELECOXIB
  169. CELEBREX [Concomitant]
     Active Substance: CELECOXIB
  170. CELEBREX [Concomitant]
     Active Substance: CELECOXIB
  171. CERTOLIZUMAB PEGOL [Concomitant]
     Active Substance: CERTOLIZUMAB PEGOL
     Indication: Psoriasis
     Route: 058
  172. CERTOLIZUMAB PEGOL [Concomitant]
     Active Substance: CERTOLIZUMAB PEGOL
     Route: 058
  173. CERTOLIZUMAB PEGOL [Concomitant]
     Active Substance: CERTOLIZUMAB PEGOL
  174. CERTOLIZUMAB PEGOL [Concomitant]
     Active Substance: CERTOLIZUMAB PEGOL
     Route: 016
  175. CERTOLIZUMAB PEGOL [Concomitant]
     Active Substance: CERTOLIZUMAB PEGOL
     Route: 058
  176. CERTOLIZUMAB PEGOL [Concomitant]
     Active Substance: CERTOLIZUMAB PEGOL
     Route: 058
  177. CETIRIZINE HYDROCHLORIDE [Concomitant]
     Active Substance: CETIRIZINE HYDROCHLORIDE
     Indication: Rheumatoid arthritis
     Route: 005
  178. CETIRIZINE HYDROCHLORIDE [Concomitant]
     Active Substance: CETIRIZINE HYDROCHLORIDE
  179. CETIRIZINE HYDROCHLORIDE [Concomitant]
     Active Substance: CETIRIZINE HYDROCHLORIDE
     Route: 048
  180. CETIRIZINE HYDROCHLORIDE [Concomitant]
     Active Substance: CETIRIZINE HYDROCHLORIDE
     Route: 048
  181. CETIRIZINE HYDROCHLORIDE [Concomitant]
     Active Substance: CETIRIZINE HYDROCHLORIDE
  182. CETIRIZINE HYDROCHLORIDE [Concomitant]
     Active Substance: CETIRIZINE HYDROCHLORIDE
  183. CETIRIZINE HYDROCHLORIDE [Concomitant]
     Active Substance: CETIRIZINE HYDROCHLORIDE
  184. CETIRIZINE HYDROCHLORIDE [Concomitant]
     Active Substance: CETIRIZINE HYDROCHLORIDE
     Route: 048
  185. CETIRIZINE HYDROCHLORIDE [Concomitant]
     Active Substance: CETIRIZINE HYDROCHLORIDE
  186. CETIRIZINE HYDROCHLORIDE [Concomitant]
     Active Substance: CETIRIZINE HYDROCHLORIDE
     Route: 048
  187. CETIRIZINE HYDROCHLORIDE [Concomitant]
     Active Substance: CETIRIZINE HYDROCHLORIDE
  188. CETIRIZINE HYDROCHLORIDE [Concomitant]
     Active Substance: CETIRIZINE HYDROCHLORIDE
  189. CETIRIZINE HYDROCHLORIDE [Concomitant]
     Active Substance: CETIRIZINE HYDROCHLORIDE
  190. CETIRIZINE HYDROCHLORIDE [Concomitant]
     Active Substance: CETIRIZINE HYDROCHLORIDE
  191. CETIRIZINE HYDROCHLORIDE [Concomitant]
     Active Substance: CETIRIZINE HYDROCHLORIDE
     Route: 048
  192. CETIRIZINE HYDROCHLORIDE [Concomitant]
     Active Substance: CETIRIZINE HYDROCHLORIDE
     Route: 048
  193. CETIRIZINE HYDROCHLORIDE [Concomitant]
     Active Substance: CETIRIZINE HYDROCHLORIDE
  194. CETIRIZINE HYDROCHLORIDE [Concomitant]
     Active Substance: CETIRIZINE HYDROCHLORIDE
  195. CETIRIZINE HYDROCHLORIDE [Concomitant]
     Active Substance: CETIRIZINE HYDROCHLORIDE
  196. CETIRIZINE HYDROCHLORIDE [Concomitant]
     Active Substance: CETIRIZINE HYDROCHLORIDE
  197. CETIRIZINE HYDROCHLORIDE [Concomitant]
     Active Substance: CETIRIZINE HYDROCHLORIDE
  198. CETIRIZINE HYDROCHLORIDE [Concomitant]
     Active Substance: CETIRIZINE HYDROCHLORIDE
  199. CETIRIZINE HYDROCHLORIDE [Concomitant]
     Active Substance: CETIRIZINE HYDROCHLORIDE
  200. CETIRIZINE HYDROCHLORIDE [Concomitant]
     Active Substance: CETIRIZINE HYDROCHLORIDE
     Route: 048
  201. CETIRIZINE HYDROCHLORIDE [Concomitant]
     Active Substance: CETIRIZINE HYDROCHLORIDE
     Route: 048
  202. CETIRIZINE HYDROCHLORIDE [Concomitant]
     Active Substance: CETIRIZINE HYDROCHLORIDE
  203. CETIRIZINE HYDROCHLORIDE [Concomitant]
     Active Substance: CETIRIZINE HYDROCHLORIDE
     Route: 048
  204. CETIRIZINE HYDROCHLORIDE [Concomitant]
     Active Substance: CETIRIZINE HYDROCHLORIDE
     Route: 048
  205. CETIRIZINE HYDROCHLORIDE [Concomitant]
     Active Substance: CETIRIZINE HYDROCHLORIDE
  206. CETIRIZINE HYDROCHLORIDE [Concomitant]
     Active Substance: CETIRIZINE HYDROCHLORIDE
     Route: 042
  207. CETIRIZINE HYDROCHLORIDE [Concomitant]
     Active Substance: CETIRIZINE HYDROCHLORIDE
  208. CETIRIZINE HYDROCHLORIDE [Concomitant]
     Active Substance: CETIRIZINE HYDROCHLORIDE
  209. CETIRIZINE HYDROCHLORIDE [Concomitant]
     Active Substance: CETIRIZINE HYDROCHLORIDE
     Route: 016
  210. CETIRIZINE HYDROCHLORIDE [Concomitant]
     Active Substance: CETIRIZINE HYDROCHLORIDE
  211. CETIRIZINE HYDROCHLORIDE [Concomitant]
     Active Substance: CETIRIZINE HYDROCHLORIDE
  212. CETIRIZINE HYDROCHLORIDE [Concomitant]
     Active Substance: CETIRIZINE HYDROCHLORIDE
  213. CIMZIA [Concomitant]
     Active Substance: CERTOLIZUMAB PEGOL
     Indication: Rheumatoid arthritis
     Route: 058
  214. CIMZIA [Concomitant]
     Active Substance: CERTOLIZUMAB PEGOL
     Indication: Psoriasis
     Route: 058
  215. CIMZIA [Concomitant]
     Active Substance: CERTOLIZUMAB PEGOL
     Route: 058
  216. CIMZIA [Concomitant]
     Active Substance: CERTOLIZUMAB PEGOL
  217. CIMZIA [Concomitant]
     Active Substance: CERTOLIZUMAB PEGOL
     Route: 058
  218. CIMZIA [Concomitant]
     Active Substance: CERTOLIZUMAB PEGOL
     Route: 058
  219. CIMZIA [Concomitant]
     Active Substance: CERTOLIZUMAB PEGOL
     Route: 048
  220. CIMZIA [Concomitant]
     Active Substance: CERTOLIZUMAB PEGOL
  221. CIMZIA [Concomitant]
     Active Substance: CERTOLIZUMAB PEGOL
     Route: 058
  222. CIMZIA [Concomitant]
     Active Substance: CERTOLIZUMAB PEGOL
     Route: 005
  223. CIMZIA [Concomitant]
     Active Substance: CERTOLIZUMAB PEGOL
     Route: 058
  224. CIMZIA [Concomitant]
     Active Substance: CERTOLIZUMAB PEGOL
     Route: 058
  225. CORTISONE [Concomitant]
     Active Substance: CORTISONE
     Indication: Rheumatoid arthritis
     Route: 058
  226. CORTISONE ACETATE [Concomitant]
     Active Substance: CORTISONE ACETATE
     Indication: Rheumatoid arthritis
     Route: 048
  227. CORTISONE ACETATE [Concomitant]
     Active Substance: CORTISONE ACETATE
     Route: 061
  228. CORTISONE ACETATE [Concomitant]
     Active Substance: CORTISONE ACETATE
  229. CORTISONE ACETATE [Concomitant]
     Active Substance: CORTISONE ACETATE
     Route: 061
  230. CORTISONE ACETATE [Concomitant]
     Active Substance: CORTISONE ACETATE
  231. CORTISONE ACETATE [Concomitant]
     Active Substance: CORTISONE ACETATE
  232. CORTISONE ACETATE [Concomitant]
     Active Substance: CORTISONE ACETATE
     Route: 048
  233. CORTISONE ACETATE [Concomitant]
     Active Substance: CORTISONE ACETATE
     Route: 048
  234. CORTISONE ACETATE [Concomitant]
     Active Substance: CORTISONE ACETATE
     Route: 061
  235. CORTISONE ACETATE [Concomitant]
     Active Substance: CORTISONE ACETATE
  236. CORTISONE ACETATE [Concomitant]
     Active Substance: CORTISONE ACETATE
     Route: 061
  237. COSENTYX [Concomitant]
     Active Substance: SECUKINUMAB
     Indication: Psoriatic arthropathy
  238. COSENTYX [Concomitant]
     Active Substance: SECUKINUMAB
     Indication: Rheumatoid arthritis
  239. COSENTYX [Concomitant]
     Active Substance: SECUKINUMAB
     Route: 005
  240. COSENTYX [Concomitant]
     Active Substance: SECUKINUMAB
     Route: 048
  241. COSENTYX [Concomitant]
     Active Substance: SECUKINUMAB
  242. DESOXIMETASONE [Concomitant]
     Active Substance: DESOXIMETASONE
     Indication: Rheumatoid arthritis
     Route: 058
  243. DESOXIMETASONE [Concomitant]
     Active Substance: DESOXIMETASONE
     Route: 048
  244. DESOXIMETASONE [Concomitant]
     Active Substance: DESOXIMETASONE
     Route: 048
  245. DESOXIMETASONE [Concomitant]
     Active Substance: DESOXIMETASONE
     Route: 003
  246. DESOXIMETASONE [Concomitant]
     Active Substance: DESOXIMETASONE
     Route: 058
  247. DESOXIMETASONE [Concomitant]
     Active Substance: DESOXIMETASONE
     Route: 048
  248. DESOXIMETASONE [Concomitant]
     Active Substance: DESOXIMETASONE
     Route: 048
  249. DESOXIMETASONE [Concomitant]
     Active Substance: DESOXIMETASONE
     Route: 003
  250. DESOXIMETASONE [Concomitant]
     Active Substance: DESOXIMETASONE
     Route: 058
  251. DESOXIMETASONE [Concomitant]
     Active Substance: DESOXIMETASONE
     Route: 048
  252. DESOXIMETASONE [Concomitant]
     Active Substance: DESOXIMETASONE
     Route: 048
  253. DESOXIMETASONE [Concomitant]
     Active Substance: DESOXIMETASONE
     Route: 058
  254. DESOXIMETASONE [Concomitant]
     Active Substance: DESOXIMETASONE
     Route: 058
  255. DESOXIMETASONE [Concomitant]
     Active Substance: DESOXIMETASONE
     Route: 048
  256. DESOXIMETASONE [Concomitant]
     Active Substance: DESOXIMETASONE
     Route: 003
  257. DESOXIMETASONE [Concomitant]
     Active Substance: DESOXIMETASONE
     Route: 048
  258. DESOXIMETASONE [Concomitant]
     Active Substance: DESOXIMETASONE
     Route: 058
  259. DESOXIMETASONE [Concomitant]
     Active Substance: DESOXIMETASONE
  260. DESOXIMETASONE [Concomitant]
     Active Substance: DESOXIMETASONE
     Route: 058
  261. DESOXIMETASONE [Concomitant]
     Active Substance: DESOXIMETASONE
     Route: 048
  262. DESOXIMETASONE [Concomitant]
     Active Substance: DESOXIMETASONE
     Route: 048
  263. DICLOFENAC DIETHYLAMINE [Concomitant]
     Active Substance: DICLOFENAC DIETHYLAMINE
     Indication: Product used for unknown indication
  264. DICLOFENAC DIETHYLAMINE [Concomitant]
     Active Substance: DICLOFENAC DIETHYLAMINE
  265. DICLOFENAC SODIUM [Concomitant]
     Active Substance: DICLOFENAC SODIUM
     Indication: Product used for unknown indication
     Route: 058
  266. DICLOFENAC SODIUM [Concomitant]
     Active Substance: DICLOFENAC SODIUM
  267. DICLOFENAC SODIUM [Concomitant]
     Active Substance: DICLOFENAC SODIUM
     Route: 047
  268. DICLOFENAC SODIUM [Concomitant]
     Active Substance: DICLOFENAC SODIUM
  269. DICLOFENAC SODIUM [Concomitant]
     Active Substance: DICLOFENAC SODIUM
     Route: 058
  270. DOMPERIDONE MALEATE [Concomitant]
     Active Substance: DOMPERIDONE MALEATE
     Indication: Product used for unknown indication
  271. DOMPERIDONE MALEATE [Concomitant]
     Active Substance: DOMPERIDONE MALEATE
  272. DOMPERIDONE MALEATE [Concomitant]
     Active Substance: DOMPERIDONE MALEATE
  273. ENBREL [Concomitant]
     Active Substance: ETANERCEPT
     Indication: Rheumatoid arthritis
     Route: 058
  274. ENBREL [Concomitant]
     Active Substance: ETANERCEPT
  275. ENBREL [Concomitant]
     Active Substance: ETANERCEPT
     Route: 058
  276. ENBREL [Concomitant]
     Active Substance: ETANERCEPT
     Route: 058
  277. ENBREL [Concomitant]
     Active Substance: ETANERCEPT
     Route: 058
  278. ENBREL [Concomitant]
     Active Substance: ETANERCEPT
  279. ENBREL [Concomitant]
     Active Substance: ETANERCEPT
     Route: 058
  280. ENBREL [Concomitant]
     Active Substance: ETANERCEPT
     Route: 058
  281. ENBREL [Concomitant]
     Active Substance: ETANERCEPT
  282. ENBREL [Concomitant]
     Active Substance: ETANERCEPT
     Route: 058
  283. ENBREL [Concomitant]
     Active Substance: ETANERCEPT
     Route: 058
  284. ENBREL [Concomitant]
     Active Substance: ETANERCEPT
     Route: 058
  285. ENBREL [Concomitant]
     Active Substance: ETANERCEPT
     Route: 058
  286. ENBREL [Concomitant]
     Active Substance: ETANERCEPT
     Route: 058
  287. ENBREL [Concomitant]
     Active Substance: ETANERCEPT
     Route: 058
  288. ERELZI [Concomitant]
     Active Substance: ETANERCEPT-SZZS
     Indication: Rheumatoid arthritis
     Route: 058
  289. ERELZI [Concomitant]
     Active Substance: ETANERCEPT-SZZS
     Route: 058
  290. ERELZI [Concomitant]
     Active Substance: ETANERCEPT-SZZS
  291. ERELZI [Concomitant]
     Active Substance: ETANERCEPT-SZZS
  292. ERELZI [Concomitant]
     Active Substance: ETANERCEPT-SZZS
  293. ERELZI [Concomitant]
     Active Substance: ETANERCEPT-SZZS
  294. ERELZI [Concomitant]
     Active Substance: ETANERCEPT-SZZS
     Route: 058
  295. ERELZI [Concomitant]
     Active Substance: ETANERCEPT-SZZS
     Route: 058
  296. ERELZI [Concomitant]
     Active Substance: ETANERCEPT-SZZS
  297. ERELZI [Concomitant]
     Active Substance: ETANERCEPT-SZZS
  298. ERELZI [Concomitant]
     Active Substance: ETANERCEPT-SZZS
  299. FLUMETHASONE [Concomitant]
     Active Substance: FLUMETHASONE
     Indication: Product used for unknown indication
  300. FLUMETHASONE [Concomitant]
     Active Substance: FLUMETHASONE
  301. FLUMETHASONE PIVALATE [Concomitant]
     Active Substance: FLUMETHASONE PIVALATE
     Indication: Rheumatoid arthritis
     Route: 003
  302. FLUMETHASONE PIVALATE [Concomitant]
     Active Substance: FLUMETHASONE PIVALATE
  303. FLUMETHASONE PIVALATE [Concomitant]
     Active Substance: FLUMETHASONE PIVALATE
     Route: 058
  304. FLUMETHASONE PIVALATE [Concomitant]
     Active Substance: FLUMETHASONE PIVALATE
     Route: 058
  305. FLUMETHASONE PIVALATE [Concomitant]
     Active Substance: FLUMETHASONE PIVALATE
     Route: 048
  306. FLUMETHASONE PIVALATE [Concomitant]
     Active Substance: FLUMETHASONE PIVALATE
  307. FOLIC ACID [Concomitant]
     Active Substance: FOLIC ACID
     Indication: Rheumatoid arthritis
     Route: 048
  308. FOLIC ACID [Concomitant]
     Active Substance: FOLIC ACID
     Route: 048
  309. FOLIC ACID [Concomitant]
     Active Substance: FOLIC ACID
     Route: 048
  310. FOLIC ACID [Concomitant]
     Active Substance: FOLIC ACID
     Route: 048
  311. FOLIC ACID [Concomitant]
     Active Substance: FOLIC ACID
     Route: 048
  312. FOLIC ACID [Concomitant]
     Active Substance: FOLIC ACID
     Route: 058
  313. FOLIC ACID [Concomitant]
     Active Substance: FOLIC ACID
     Route: 058
  314. FOLIC ACID [Concomitant]
     Active Substance: FOLIC ACID
     Route: 048
  315. FOLIC ACID [Concomitant]
     Active Substance: FOLIC ACID
  316. FOLIC ACID [Concomitant]
     Active Substance: FOLIC ACID
  317. FOLIC ACID [Concomitant]
     Active Substance: FOLIC ACID
     Route: 048
  318. FOLIC ACID [Concomitant]
     Active Substance: FOLIC ACID
     Route: 048
  319. FOLIC ACID [Concomitant]
     Active Substance: FOLIC ACID
  320. FOLIC ACID [Concomitant]
     Active Substance: FOLIC ACID
  321. FOLIC ACID [Concomitant]
     Active Substance: FOLIC ACID
     Route: 058
  322. FOLIC ACID [Concomitant]
     Active Substance: FOLIC ACID
  323. FOLIC ACID [Concomitant]
     Active Substance: FOLIC ACID
  324. FOLIC ACID [Concomitant]
     Active Substance: FOLIC ACID
     Route: 048
  325. FOLIC ACID [Concomitant]
     Active Substance: FOLIC ACID
  326. FOLIC ACID [Concomitant]
     Active Substance: FOLIC ACID
     Route: 058
  327. FOLIC ACID [Concomitant]
     Active Substance: FOLIC ACID
     Route: 048
  328. FOLIC ACID [Concomitant]
     Active Substance: FOLIC ACID
  329. FOLIC ACID [Concomitant]
     Active Substance: FOLIC ACID
  330. FOSAMAX [Concomitant]
     Active Substance: ALENDRONATE SODIUM
     Indication: Rheumatoid arthritis
     Route: 048
  331. FOSAMAX [Concomitant]
     Active Substance: ALENDRONATE SODIUM
     Route: 058
  332. FOSAMAX [Concomitant]
     Active Substance: ALENDRONATE SODIUM
     Route: 016
  333. FOSAMAX [Concomitant]
     Active Substance: ALENDRONATE SODIUM
     Route: 005
  334. FOSAMAX [Concomitant]
     Active Substance: ALENDRONATE SODIUM
     Route: 048
  335. FOSAMAX [Concomitant]
     Active Substance: ALENDRONATE SODIUM
     Route: 058
  336. FOSAMAX [Concomitant]
     Active Substance: ALENDRONATE SODIUM
  337. FOSAMAX [Concomitant]
     Active Substance: ALENDRONATE SODIUM
     Route: 016
  338. FOSAMAX [Concomitant]
     Active Substance: ALENDRONATE SODIUM
     Route: 048
  339. GOLD SODIUM THIOMALATE [Concomitant]
     Active Substance: GOLD SODIUM THIOMALATE
     Indication: Product used for unknown indication
     Route: 030
  340. GOLD SODIUM THIOMALATE [Concomitant]
     Active Substance: GOLD SODIUM THIOMALATE
  341. GOLIMUMAB [Concomitant]
     Active Substance: GOLIMUMAB
     Indication: Rheumatoid arthritis
  342. GOLIMUMAB [Concomitant]
     Active Substance: GOLIMUMAB
     Indication: Prostatic specific antigen
     Route: 058
  343. GOLIMUMAB [Concomitant]
     Active Substance: GOLIMUMAB
  344. GOLIMUMAB [Concomitant]
     Active Substance: GOLIMUMAB
  345. GOLIMUMAB [Concomitant]
     Active Substance: GOLIMUMAB
  346. GOLIMUMAB [Concomitant]
     Active Substance: GOLIMUMAB
     Route: 058
  347. HUMIRA [Concomitant]
     Active Substance: ADALIMUMAB
     Indication: Rheumatoid arthritis
     Route: 057
  348. HUMIRA [Concomitant]
     Active Substance: ADALIMUMAB
     Indication: Psoriatic arthropathy
     Route: 058
  349. HUMIRA [Concomitant]
     Active Substance: ADALIMUMAB
     Route: 058
  350. HUMIRA [Concomitant]
     Active Substance: ADALIMUMAB
     Route: 057
  351. HUMIRA [Concomitant]
     Active Substance: ADALIMUMAB
     Route: 058
  352. HUMIRA [Concomitant]
     Active Substance: ADALIMUMAB
     Route: 057
  353. HUMIRA [Concomitant]
     Active Substance: ADALIMUMAB
     Route: 058
  354. HUMIRA [Concomitant]
     Active Substance: ADALIMUMAB
  355. HUMIRA [Concomitant]
     Active Substance: ADALIMUMAB
     Route: 058
  356. HUMIRA [Concomitant]
     Active Substance: ADALIMUMAB
     Route: 058
  357. HYDROCORTISONE [Concomitant]
     Active Substance: HYDROCORTISONE
     Indication: Rheumatoid arthritis
     Route: 061
  358. HYDROCORTISONE [Concomitant]
     Active Substance: HYDROCORTISONE
     Route: 003
  359. HYDROCORTISONE [Concomitant]
     Active Substance: HYDROCORTISONE
     Route: 058
  360. HYDROCORTISONE [Concomitant]
     Active Substance: HYDROCORTISONE
     Route: 048
  361. HYDROCORTISONE [Concomitant]
     Active Substance: HYDROCORTISONE
  362. HYDROCORTISONE [Concomitant]
     Active Substance: HYDROCORTISONE
  363. HYDROCORTISONE [Concomitant]
     Active Substance: HYDROCORTISONE
     Route: 048
  364. HYDROXYCHLOROQUINE [Concomitant]
     Active Substance: HYDROXYCHLOROQUINE
     Indication: Rheumatoid arthritis
  365. HYDROXYCHLOROQUINE [Concomitant]
     Active Substance: HYDROXYCHLOROQUINE
     Indication: Systemic lupus erythematosus
     Route: 048
  366. HYDROXYCHLOROQUINE [Concomitant]
     Active Substance: HYDROXYCHLOROQUINE
  367. HYDROXYCHLOROQUINE [Concomitant]
     Active Substance: HYDROXYCHLOROQUINE
     Route: 058
  368. HYDROXYCHLOROQUINE [Concomitant]
     Active Substance: HYDROXYCHLOROQUINE
  369. HYDROXYCHLOROQUINE [Concomitant]
     Active Substance: HYDROXYCHLOROQUINE
     Route: 048
  370. HYDROXYCHLOROQUINE [Concomitant]
     Active Substance: HYDROXYCHLOROQUINE
     Route: 048
  371. HYDROXYCHLOROQUINE [Concomitant]
     Active Substance: HYDROXYCHLOROQUINE
  372. HYDROXYCHLOROQUINE [Concomitant]
     Active Substance: HYDROXYCHLOROQUINE
     Route: 048
  373. HYDROXYCHLOROQUINE [Concomitant]
     Active Substance: HYDROXYCHLOROQUINE
     Route: 058
  374. HYDROXYCHLOROQUINE [Concomitant]
     Active Substance: HYDROXYCHLOROQUINE
     Route: 058
  375. HYDROXYCHLOROQUINE [Concomitant]
     Active Substance: HYDROXYCHLOROQUINE
     Route: 048
  376. HYDROXYCHLOROQUINE [Concomitant]
     Active Substance: HYDROXYCHLOROQUINE
     Route: 048
  377. HYDROXYCHLOROQUINE [Concomitant]
     Active Substance: HYDROXYCHLOROQUINE
     Route: 048
  378. HYDROXYCHLOROQUINE [Concomitant]
     Active Substance: HYDROXYCHLOROQUINE
  379. HYDROXYCHLOROQUINE [Concomitant]
     Active Substance: HYDROXYCHLOROQUINE
     Route: 048
  380. HYDROXYCHLOROQUINE [Concomitant]
     Active Substance: HYDROXYCHLOROQUINE
     Route: 048
  381. HYDROXYCHLOROQUINE [Concomitant]
     Active Substance: HYDROXYCHLOROQUINE
  382. HYDROXYCHLOROQUINE [Concomitant]
     Active Substance: HYDROXYCHLOROQUINE
  383. HYDROXYCHLOROQUINE [Concomitant]
     Active Substance: HYDROXYCHLOROQUINE
  384. HYDROXYCHLOROQUINE [Concomitant]
     Active Substance: HYDROXYCHLOROQUINE
     Route: 048
  385. HYDROXYCHLOROQUINE [Concomitant]
     Active Substance: HYDROXYCHLOROQUINE
  386. HYDROXYCHLOROQUINE [Concomitant]
     Active Substance: HYDROXYCHLOROQUINE
     Route: 048
  387. HYDROXYCHLOROQUINE [Concomitant]
     Active Substance: HYDROXYCHLOROQUINE
  388. HYDROXYCHLOROQUINE [Concomitant]
     Active Substance: HYDROXYCHLOROQUINE
     Route: 005
  389. HYDROXYCHLOROQUINE [Concomitant]
     Active Substance: HYDROXYCHLOROQUINE
     Route: 048
  390. HYDROXYCHLOROQUINE [Concomitant]
     Active Substance: HYDROXYCHLOROQUINE
  391. HYDROXYCHLOROQUINE [Concomitant]
     Active Substance: HYDROXYCHLOROQUINE
     Route: 005
  392. HYDROXYCHLOROQUINE [Concomitant]
     Active Substance: HYDROXYCHLOROQUINE
     Route: 048
  393. HYDROXYCHLOROQUINE [Concomitant]
     Active Substance: HYDROXYCHLOROQUINE
  394. HYDROXYCHLOROQUINE [Concomitant]
     Active Substance: HYDROXYCHLOROQUINE
     Route: 048
  395. HYDROXYCHLOROQUINE [Concomitant]
     Active Substance: HYDROXYCHLOROQUINE
  396. HYDROXYCHLOROQUINE [Concomitant]
     Active Substance: HYDROXYCHLOROQUINE
     Route: 048
  397. HYDROXYCHLOROQUINE [Concomitant]
     Active Substance: HYDROXYCHLOROQUINE
  398. HYDROXYCHLOROQUINE [Concomitant]
     Active Substance: HYDROXYCHLOROQUINE
     Route: 048
  399. HYDROXYCHLOROQUINE SULFATE [Concomitant]
     Active Substance: HYDROXYCHLOROQUINE SULFATE
     Indication: Rheumatoid arthritis
     Route: 048
  400. HYDROXYCHLOROQUINE SULFATE [Concomitant]
     Active Substance: HYDROXYCHLOROQUINE SULFATE
     Route: 048
  401. HYDROXYCHLOROQUINE SULFATE [Concomitant]
     Active Substance: HYDROXYCHLOROQUINE SULFATE
  402. HYDROXYCHLOROQUINE SULFATE [Concomitant]
     Active Substance: HYDROXYCHLOROQUINE SULFATE
     Route: 016
  403. HYDROXYCHLOROQUINE SULFATE [Concomitant]
     Active Substance: HYDROXYCHLOROQUINE SULFATE
     Route: 048
  404. HYDROXYCHLOROQUINE SULFATE [Concomitant]
     Active Substance: HYDROXYCHLOROQUINE SULFATE
     Route: 048
  405. HYDROXYCHLOROQUINE SULFATE [Concomitant]
     Active Substance: HYDROXYCHLOROQUINE SULFATE
  406. HYDROXYCHLOROQUINE SULFATE [Concomitant]
     Active Substance: HYDROXYCHLOROQUINE SULFATE
     Route: 005
  407. HYDROXYCHLOROQUINE SULFATE [Concomitant]
     Active Substance: HYDROXYCHLOROQUINE SULFATE
  408. HYDROXYCHLOROQUINE SULFATE [Concomitant]
     Active Substance: HYDROXYCHLOROQUINE SULFATE
  409. HYDROXYCHLOROQUINE SULFATE [Concomitant]
     Active Substance: HYDROXYCHLOROQUINE SULFATE
     Route: 066
  410. INFLIXIMAB [Concomitant]
     Active Substance: INFLIXIMAB
     Indication: Rheumatoid arthritis
     Route: 042
  411. INFLIXIMAB [Concomitant]
     Active Substance: INFLIXIMAB
     Route: 042
  412. INFLIXIMAB [Concomitant]
     Active Substance: INFLIXIMAB
     Route: 058
  413. INFLIXIMAB [Concomitant]
     Active Substance: INFLIXIMAB
     Route: 042
  414. INFLIXIMAB [Concomitant]
     Active Substance: INFLIXIMAB
     Route: 042
  415. INFLIXIMAB [Concomitant]
     Active Substance: INFLIXIMAB
  416. INFLIXIMAB [Concomitant]
     Active Substance: INFLIXIMAB
     Route: 042
  417. INFLIXIMAB [Concomitant]
     Active Substance: INFLIXIMAB
     Route: 042
  418. INFLIXIMAB [Concomitant]
     Active Substance: INFLIXIMAB
     Route: 042
  419. INFLIXIMAB [Concomitant]
     Active Substance: INFLIXIMAB
  420. INFLIXIMAB [Concomitant]
     Active Substance: INFLIXIMAB
  421. KEVZARA [Concomitant]
     Active Substance: SARILUMAB
     Indication: Rheumatoid arthritis
  422. KEVZARA [Concomitant]
     Active Substance: SARILUMAB
  423. LAMICTAL [Concomitant]
     Active Substance: LAMOTRIGINE
     Indication: Product used for unknown indication
     Route: 048
  424. LAMICTAL [Concomitant]
     Active Substance: LAMOTRIGINE
     Route: 048
  425. LAMICTAL [Concomitant]
     Active Substance: LAMOTRIGINE
     Route: 048
  426. LAMICTAL [Concomitant]
     Active Substance: LAMOTRIGINE
     Route: 048
  427. LAMICTAL [Concomitant]
     Active Substance: LAMOTRIGINE
     Route: 048
  428. LAMICTAL [Concomitant]
     Active Substance: LAMOTRIGINE
     Route: 048
  429. LAMICTAL [Concomitant]
     Active Substance: LAMOTRIGINE
     Route: 048
  430. LAMICTAL [Concomitant]
     Active Substance: LAMOTRIGINE
     Route: 048
  431. LAMICTAL [Concomitant]
     Active Substance: LAMOTRIGINE
     Route: 048
  432. LEFLUNOMIDE [Concomitant]
     Active Substance: LEFLUNOMIDE
     Indication: Rheumatoid arthritis
  433. LEFLUNOMIDE [Concomitant]
     Active Substance: LEFLUNOMIDE
  434. LEFLUNOMIDE [Concomitant]
     Active Substance: LEFLUNOMIDE
     Route: 048
  435. LEFLUNOMIDE [Concomitant]
     Active Substance: LEFLUNOMIDE
     Route: 048
  436. LEFLUNOMIDE [Concomitant]
     Active Substance: LEFLUNOMIDE
     Route: 048
  437. LEFLUNOMIDE [Concomitant]
     Active Substance: LEFLUNOMIDE
  438. LEFLUNOMIDE [Concomitant]
     Active Substance: LEFLUNOMIDE
  439. LEFLUNOMIDE [Concomitant]
     Active Substance: LEFLUNOMIDE
     Route: 048
  440. LEFLUNOMIDE [Concomitant]
     Active Substance: LEFLUNOMIDE
  441. LEFLUNOMIDE [Concomitant]
     Active Substance: LEFLUNOMIDE
  442. LEFLUNOMIDE [Concomitant]
     Active Substance: LEFLUNOMIDE
     Route: 048
  443. METHOTREXATE [Concomitant]
     Active Substance: METHOTREXATE
     Indication: Rheumatoid arthritis
     Route: 013
  444. METHOTREXATE [Concomitant]
     Active Substance: METHOTREXATE
     Route: 048
  445. METHOTREXATE [Concomitant]
     Active Substance: METHOTREXATE
     Route: 048
  446. METHOTREXATE [Concomitant]
     Active Substance: METHOTREXATE
     Route: 048
  447. METHOTREXATE [Concomitant]
     Active Substance: METHOTREXATE
     Route: 048
  448. METHOTREXATE [Concomitant]
     Active Substance: METHOTREXATE
     Route: 048
  449. METHOTREXATE [Concomitant]
     Active Substance: METHOTREXATE
     Route: 048
  450. METHOTREXATE [Concomitant]
     Active Substance: METHOTREXATE
     Route: 058
  451. METHOTREXATE [Concomitant]
     Active Substance: METHOTREXATE
  452. METHOTREXATE [Concomitant]
     Active Substance: METHOTREXATE
     Route: 048
  453. METHOTREXATE [Concomitant]
     Active Substance: METHOTREXATE
     Route: 013
  454. METHOTREXATE [Concomitant]
     Active Substance: METHOTREXATE
     Route: 058
  455. METHOTREXATE [Concomitant]
     Active Substance: METHOTREXATE
     Route: 058
  456. METHOTREXATE [Concomitant]
     Active Substance: METHOTREXATE
     Route: 048
  457. METHOTREXATE [Concomitant]
     Active Substance: METHOTREXATE
     Route: 058
  458. METHOTREXATE [Concomitant]
     Active Substance: METHOTREXATE
     Route: 048
  459. METHOTREXATE [Concomitant]
     Active Substance: METHOTREXATE
     Route: 058
  460. METHOTREXATE [Concomitant]
     Active Substance: METHOTREXATE
     Route: 048
  461. METHOTREXATE [Concomitant]
     Active Substance: METHOTREXATE
     Route: 048
  462. METHOTREXATE [Concomitant]
     Active Substance: METHOTREXATE
     Route: 048
  463. METHOTREXATE [Concomitant]
     Active Substance: METHOTREXATE
  464. METHOTREXATE [Concomitant]
     Active Substance: METHOTREXATE
     Route: 048
  465. METHOTREXATE [Concomitant]
     Active Substance: METHOTREXATE
     Route: 016
  466. METHOTREXATE [Concomitant]
     Active Substance: METHOTREXATE
     Route: 013
  467. METHOTREXATE [Concomitant]
     Active Substance: METHOTREXATE
     Route: 048
  468. METHOTREXATE [Concomitant]
     Active Substance: METHOTREXATE
     Route: 013
  469. METHOTREXATE [Concomitant]
     Active Substance: METHOTREXATE
  470. METHOTREXATE [Concomitant]
     Active Substance: METHOTREXATE
     Route: 048
  471. METHOTREXATE [Concomitant]
     Active Substance: METHOTREXATE
     Route: 048
  472. METHOTREXATE [Concomitant]
     Active Substance: METHOTREXATE
     Route: 048
  473. METHOTREXATE [Concomitant]
     Active Substance: METHOTREXATE
     Route: 048
  474. METHOTREXATE [Concomitant]
     Active Substance: METHOTREXATE
     Route: 048
  475. METHOTREXATE [Concomitant]
     Active Substance: METHOTREXATE
     Route: 048
  476. METHOTREXATE [Concomitant]
     Active Substance: METHOTREXATE
     Route: 013
  477. METHOTREXATE [Concomitant]
     Active Substance: METHOTREXATE
     Route: 048
  478. METHOTREXATE [Concomitant]
     Active Substance: METHOTREXATE
  479. METHOTREXATE [Concomitant]
     Active Substance: METHOTREXATE
     Route: 048
  480. METHOTREXATE [Concomitant]
     Active Substance: METHOTREXATE
     Route: 058
  481. METHOTREXATE [Concomitant]
     Active Substance: METHOTREXATE
     Route: 048
  482. METHOTREXATE [Concomitant]
     Active Substance: METHOTREXATE
  483. METHOTREXATE [Concomitant]
     Active Substance: METHOTREXATE
     Route: 048
  484. METHOTREXATE [Concomitant]
     Active Substance: METHOTREXATE
     Route: 048
  485. METHOTREXATE [Concomitant]
     Active Substance: METHOTREXATE
     Route: 048
  486. METHOTREXATE [Concomitant]
     Active Substance: METHOTREXATE
     Route: 048
  487. METHYLPREDNISOLONE [Concomitant]
     Active Substance: METHYLPREDNISOLONE
     Indication: Product used for unknown indication
  488. METHYLPREDNISOLONE [Concomitant]
     Active Substance: METHYLPREDNISOLONE
  489. METHYLPREDNISOLONE SODIUM SUCCINATE [Concomitant]
     Active Substance: METHYLPREDNISOLONE SODIUM SUCCINATE
     Indication: Rheumatoid arthritis
  490. METHYLPREDNISOLONE SODIUM SUCCINATE [Concomitant]
     Active Substance: METHYLPREDNISOLONE SODIUM SUCCINATE
  491. MINOCYCLINE HYDROCHLORIDE [Concomitant]
     Active Substance: MINOCYCLINE HYDROCHLORIDE
     Indication: Rheumatoid arthritis
  492. MINOCYCLINE [Concomitant]
     Active Substance: MINOCYCLINE HYDROCHLORIDE
     Indication: Product used for unknown indication
  493. MINOCYCLINE [Concomitant]
     Active Substance: MINOCYCLINE HYDROCHLORIDE
  494. MINOCYCLINE HYDROCHLORIDE [Concomitant]
     Active Substance: MINOCYCLINE HYDROCHLORIDE
     Indication: Rheumatoid arthritis
  495. MINOCYCLINE HYDROCHLORIDE [Concomitant]
     Active Substance: MINOCYCLINE HYDROCHLORIDE
  496. MINOCYCLINE HYDROCHLORIDE [Concomitant]
     Active Substance: MINOCYCLINE HYDROCHLORIDE
  497. MYOCHRYSINE [Concomitant]
     Active Substance: GOLD SODIUM THIOMALATE
     Indication: Rheumatoid arthritis
     Route: 030
  498. MYOCHRYSINE [Concomitant]
     Active Substance: GOLD SODIUM THIOMALATE
     Route: 030
  499. MYRBETRIQ [Concomitant]
     Active Substance: MIRABEGRON
     Indication: Product used for unknown indication
     Dosage: TABLET (EXTENDED-RELEASE)
  500. MYRBETRIQ [Concomitant]
     Active Substance: MIRABEGRON
     Dosage: TABLET (EXTENDED-RELEASE)
     Route: 030
  501. MYRBETRIQ [Concomitant]
     Active Substance: MIRABEGRON
     Dosage: TABLET (EXTENDED-RELEASE)
  502. MYRBETRIQ [Concomitant]
     Active Substance: MIRABEGRON
     Dosage: TABLET (EXTENDED-RELEASE)
  503. MYRBETRIQ [Concomitant]
     Active Substance: MIRABEGRON
  504. MYRBETRIQ [Concomitant]
     Active Substance: MIRABEGRON
  505. NAPROXEN [Concomitant]
     Active Substance: NAPROXEN
     Indication: Product used for unknown indication
  506. NAPROXEN [Concomitant]
     Active Substance: NAPROXEN
     Indication: Product used for unknown indication
  507. NAPROXEN [Concomitant]
     Active Substance: NAPROXEN
  508. NAPROXEN SODIUM [Concomitant]
     Active Substance: NAPROXEN SODIUM
     Indication: Rheumatoid arthritis
  509. NAPROXEN SODIUM [Concomitant]
     Active Substance: NAPROXEN SODIUM
  510. NUCALA [Concomitant]
     Active Substance: MEPOLIZUMAB
     Indication: Product used for unknown indication
  511. NUCALA [Concomitant]
     Active Substance: MEPOLIZUMAB
  512. OXYCODONE [Concomitant]
     Active Substance: OXYCODONE
     Indication: Product used for unknown indication
  513. OXYCODONE [Concomitant]
     Active Substance: OXYCODONE
  514. OXYCODONE TEREPHTHALATE [Concomitant]
     Active Substance: OXYCODONE TEREPHTHALATE
     Indication: Product used for unknown indication
  515. OXYCODONE TEREPHTHALATE [Concomitant]
     Active Substance: OXYCODONE TEREPHTHALATE
  516. PHENYLEPHRINE HYDROCHLORIDE [Concomitant]
     Active Substance: PHENYLEPHRINE HYDROCHLORIDE
     Indication: Rheumatoid arthritis
  517. PHENYLEPHRINE HYDROCHLORIDE [Concomitant]
     Active Substance: PHENYLEPHRINE HYDROCHLORIDE
     Route: 030
  518. PHTHALYLSULFATHIAZOLE [Concomitant]
     Active Substance: PHTHALYLSULFATHIAZOLE
     Indication: Rheumatoid arthritis
     Route: 048
  519. PHTHALYLSULFATHIAZOLE [Concomitant]
     Active Substance: PHTHALYLSULFATHIAZOLE
     Route: 048
  520. PHTHALYLSULFATHIAZOLE [Concomitant]
     Active Substance: PHTHALYLSULFATHIAZOLE
     Route: 042
  521. PHTHALYLSULFATHIAZOLE [Concomitant]
     Active Substance: PHTHALYLSULFATHIAZOLE
     Route: 058
  522. PHTHALYLSULFATHIAZOLE [Concomitant]
     Active Substance: PHTHALYLSULFATHIAZOLE
     Route: 067
  523. PHTHALYLSULFATHIAZOLE [Concomitant]
     Active Substance: PHTHALYLSULFATHIAZOLE
     Route: 048
  524. PHTHALYLSULFATHIAZOLE [Concomitant]
     Active Substance: PHTHALYLSULFATHIAZOLE
     Route: 048
  525. PHTHALYLSULFATHIAZOLE [Concomitant]
     Active Substance: PHTHALYLSULFATHIAZOLE
  526. PHTHALYLSULFATHIAZOLE [Concomitant]
     Active Substance: PHTHALYLSULFATHIAZOLE
  527. PHTHALYLSULFATHIAZOLE [Concomitant]
     Active Substance: PHTHALYLSULFATHIAZOLE
  528. PREDNISONE [Concomitant]
     Active Substance: PREDNISONE
     Indication: Rheumatoid arthritis
     Route: 048
  529. PREDNISONE [Concomitant]
     Active Substance: PREDNISONE
     Route: 048
  530. PREDNISONE [Concomitant]
     Active Substance: PREDNISONE
     Route: 048
  531. PREDNISONE [Concomitant]
     Active Substance: PREDNISONE
     Route: 048
  532. PREDNISONE [Concomitant]
     Active Substance: PREDNISONE
  533. PREDNISONE [Concomitant]
     Active Substance: PREDNISONE
     Route: 048
  534. PREDNISONE [Concomitant]
     Active Substance: PREDNISONE
  535. PREDNISONE [Concomitant]
     Active Substance: PREDNISONE
     Route: 048
  536. PREDNISONE [Concomitant]
     Active Substance: PREDNISONE
  537. PREDNISONE [Concomitant]
     Active Substance: PREDNISONE
     Route: 048
  538. PREDNISONE [Concomitant]
     Active Substance: PREDNISONE
     Route: 048
  539. PREDNISONE [Concomitant]
     Active Substance: PREDNISONE
  540. PREDNISONE [Concomitant]
     Active Substance: PREDNISONE
  541. PREDNISONE [Concomitant]
     Active Substance: PREDNISONE
  542. PREDNISONE [Concomitant]
     Active Substance: PREDNISONE
     Route: 048
  543. PREDNISONE [Concomitant]
     Active Substance: PREDNISONE
     Route: 048
  544. PREDNISONE [Concomitant]
     Active Substance: PREDNISONE
     Route: 048
  545. PREDNISONE [Concomitant]
     Active Substance: PREDNISONE
  546. PREDNISONE [Concomitant]
     Active Substance: PREDNISONE
  547. PSEUDOEPHEDRINE [Concomitant]
     Active Substance: PSEUDOEPHEDRINE
     Indication: Product used for unknown indication
  548. PSEUDOEPHEDRINE [Concomitant]
     Active Substance: PSEUDOEPHEDRINE
  549. PSEUDOEPHEDRINE [Concomitant]
     Active Substance: PSEUDOEPHEDRINE
  550. PSEUDOEPHEDRINE [Concomitant]
     Active Substance: PSEUDOEPHEDRINE
     Route: 048
  551. PSEUDOEPHEDRINE [Concomitant]
     Active Substance: PSEUDOEPHEDRINE
     Route: 030
  552. RAMIPRIL [Concomitant]
     Active Substance: RAMIPRIL
     Indication: Rheumatoid arthritis
     Route: 016
  553. RAMIPRIL [Concomitant]
     Active Substance: RAMIPRIL
     Route: 042
  554. RAMIPRIL [Concomitant]
     Active Substance: RAMIPRIL
     Route: 016
  555. RAMIPRIL [Concomitant]
     Active Substance: RAMIPRIL
  556. RANITIDINE [Concomitant]
     Active Substance: RANITIDINE
     Indication: Product used for unknown indication
  557. RANITIDINE [Concomitant]
     Active Substance: RANITIDINE
  558. RANITIDINE [Concomitant]
     Active Substance: RANITIDINE
     Route: 058
  559. RANITIDINE [Concomitant]
     Active Substance: RANITIDINE
  560. RANITIDINE [Concomitant]
     Active Substance: RANITIDINE
  561. RANITIDINE [Concomitant]
     Active Substance: RANITIDINE
     Route: 042
  562. CETIRIZINE HYDROCHLORIDE\PSEUDOEPHEDRINE HYDROCHLORIDE [Concomitant]
     Active Substance: CETIRIZINE HYDROCHLORIDE\PSEUDOEPHEDRINE HYDROCHLORIDE
     Indication: Rheumatoid arthritis
     Route: 042
  563. CETIRIZINE HYDROCHLORIDE\PSEUDOEPHEDRINE HYDROCHLORIDE [Concomitant]
     Active Substance: CETIRIZINE HYDROCHLORIDE\PSEUDOEPHEDRINE HYDROCHLORIDE
  564. CETIRIZINE HYDROCHLORIDE\PSEUDOEPHEDRINE HYDROCHLORIDE [Concomitant]
     Active Substance: CETIRIZINE HYDROCHLORIDE\PSEUDOEPHEDRINE HYDROCHLORIDE
  565. CETIRIZINE HYDROCHLORIDE\PSEUDOEPHEDRINE HYDROCHLORIDE [Concomitant]
     Active Substance: CETIRIZINE HYDROCHLORIDE\PSEUDOEPHEDRINE HYDROCHLORIDE
  566. REMICADE [Concomitant]
     Active Substance: INFLIXIMAB
     Indication: Rheumatoid arthritis
     Route: 058
  567. REMICADE [Concomitant]
     Active Substance: INFLIXIMAB
     Route: 042
  568. REMICADE [Concomitant]
     Active Substance: INFLIXIMAB
     Route: 042
  569. REMICADE [Concomitant]
     Active Substance: INFLIXIMAB
     Route: 042
  570. REMICADE [Concomitant]
     Active Substance: INFLIXIMAB
  571. REMICADE [Concomitant]
     Active Substance: INFLIXIMAB
     Route: 041
  572. REMICADE [Concomitant]
     Active Substance: INFLIXIMAB
     Route: 042
  573. TRUXIMA [Concomitant]
     Active Substance: RITUXIMAB-ABBS
     Indication: Rheumatoid arthritis
     Route: 041
  574. TRUXIMA [Concomitant]
     Active Substance: RITUXIMAB-ABBS
  575. TRUXIMA [Concomitant]
     Active Substance: RITUXIMAB-ABBS
     Route: 042
  576. TRUXIMA [Concomitant]
     Active Substance: RITUXIMAB-ABBS
     Route: 042
  577. TRUXIMA [Concomitant]
     Active Substance: RITUXIMAB-ABBS
     Route: 058
  578. TRUXIMA [Concomitant]
     Active Substance: RITUXIMAB-ABBS
  579. TRUXIMA [Concomitant]
     Active Substance: RITUXIMAB-ABBS
     Route: 043
  580. TRUXIMA [Concomitant]
     Active Substance: RITUXIMAB-ABBS
     Route: 042
  581. TRUXIMA [Concomitant]
     Active Substance: RITUXIMAB-ABBS
  582. TRUXIMA [Concomitant]
     Active Substance: RITUXIMAB-ABBS
     Route: 058
  583. TRUXIMA [Concomitant]
     Active Substance: RITUXIMAB-ABBS
     Route: 042
  584. TRUXIMA [Concomitant]
     Active Substance: RITUXIMAB-ABBS
  585. TRUXIMA [Concomitant]
     Active Substance: RITUXIMAB-ABBS
     Route: 042
  586. TRUXIMA [Concomitant]
     Active Substance: RITUXIMAB-ABBS
     Route: 042
  587. TRUXIMA [Concomitant]
     Active Substance: RITUXIMAB-ABBS
     Route: 042
  588. TRUXIMA [Concomitant]
     Active Substance: RITUXIMAB-ABBS
     Route: 042
  589. TRUXIMA [Concomitant]
     Active Substance: RITUXIMAB-ABBS
     Route: 042
  590. TRUXIMA [Concomitant]
     Active Substance: RITUXIMAB-ABBS
     Route: 040
  591. TRUXIMA [Concomitant]
     Active Substance: RITUXIMAB-ABBS
  592. TRUXIMA [Concomitant]
     Active Substance: RITUXIMAB-ABBS
     Route: 016
  593. TRUXIMA [Concomitant]
     Active Substance: RITUXIMAB-ABBS
  594. TRUXIMA [Concomitant]
     Active Substance: RITUXIMAB-ABBS
  595. TRUXIMA [Concomitant]
     Active Substance: RITUXIMAB-ABBS
  596. TRUXIMA [Concomitant]
     Active Substance: RITUXIMAB-ABBS
  597. TRUXIMA [Concomitant]
     Active Substance: RITUXIMAB-ABBS
     Route: 042
  598. TRUXIMA [Concomitant]
     Active Substance: RITUXIMAB-ABBS
     Route: 042
  599. TRUXIMA [Concomitant]
     Active Substance: RITUXIMAB-ABBS
     Route: 042
  600. TRUXIMA [Concomitant]
     Active Substance: RITUXIMAB-ABBS
     Route: 042
  601. TRUXIMA [Concomitant]
     Active Substance: RITUXIMAB-ABBS
     Route: 042
  602. TRUXIMA [Concomitant]
     Active Substance: RITUXIMAB-ABBS
     Route: 058
  603. TRUXIMA [Concomitant]
     Active Substance: RITUXIMAB-ABBS
     Route: 058
  604. TRUXIMA [Concomitant]
     Active Substance: RITUXIMAB-ABBS
     Route: 043
  605. TRUXIMA [Concomitant]
     Active Substance: RITUXIMAB-ABBS
     Route: 043
  606. TRUXIMA [Concomitant]
     Active Substance: RITUXIMAB-ABBS
     Route: 016
  607. TRUXIMA [Concomitant]
     Active Substance: RITUXIMAB-ABBS
  608. TRUXIMA [Concomitant]
     Active Substance: RITUXIMAB-ABBS
  609. SULFASALAZINE [Concomitant]
     Active Substance: SULFASALAZINE
     Indication: Rheumatoid arthritis
  610. SULFASALAZINE [Concomitant]
     Active Substance: SULFASALAZINE
  611. SULFASALAZINE [Concomitant]
     Active Substance: SULFASALAZINE
     Route: 048
  612. SULFASALAZINE [Concomitant]
     Active Substance: SULFASALAZINE
     Route: 058
  613. SULFASALAZINE [Concomitant]
     Active Substance: SULFASALAZINE
     Route: 048
  614. SULFASALAZINE [Concomitant]
     Active Substance: SULFASALAZINE
     Route: 048
  615. SULFASALAZINE [Concomitant]
     Active Substance: SULFASALAZINE
     Route: 048
  616. SULFASALAZINE [Concomitant]
     Active Substance: SULFASALAZINE
  617. SULFASALAZINE [Concomitant]
     Active Substance: SULFASALAZINE
  618. SULFASALAZINE [Concomitant]
     Active Substance: SULFASALAZINE
     Route: 048
  619. SIMPONI [Concomitant]
     Active Substance: GOLIMUMAB
     Indication: Rheumatoid arthritis
     Route: 058
  620. SIMPONI [Concomitant]
     Active Substance: GOLIMUMAB
     Indication: Prostatic specific antigen
  621. SIMPONI [Concomitant]
     Active Substance: GOLIMUMAB
     Route: 058
  622. SIMPONI [Concomitant]
     Active Substance: GOLIMUMAB
  623. SIMPONI [Concomitant]
     Active Substance: GOLIMUMAB
     Route: 058
  624. SIMPONI [Concomitant]
     Active Substance: GOLIMUMAB
     Route: 058
  625. SIMPONI [Concomitant]
     Active Substance: GOLIMUMAB
     Route: 042
  626. SIRUKUMAB [Concomitant]
     Active Substance: SIRUKUMAB
     Indication: Product used for unknown indication
  627. SIRUKUMAB [Concomitant]
     Active Substance: SIRUKUMAB
  628. GOLD SODIUM THIOMALATE [Concomitant]
     Active Substance: GOLD SODIUM THIOMALATE
     Indication: Product used for unknown indication
     Route: 048
  629. GOLD SODIUM THIOMALATE [Concomitant]
     Active Substance: GOLD SODIUM THIOMALATE
     Route: 058
  630. GOLD SODIUM THIOMALATE [Concomitant]
     Active Substance: GOLD SODIUM THIOMALATE
     Route: 030
  631. GOLD SODIUM THIOMALATE [Concomitant]
     Active Substance: GOLD SODIUM THIOMALATE
  632. STELARA [Concomitant]
     Active Substance: USTEKINUMAB
     Indication: Rheumatoid arthritis
     Route: 058
  633. STELARA [Concomitant]
     Active Substance: USTEKINUMAB
     Route: 042
  634. STELARA [Concomitant]
     Active Substance: USTEKINUMAB
     Route: 042
  635. SULFASALAZINE [Concomitant]
     Active Substance: SULFASALAZINE
     Indication: Rheumatoid arthritis
     Route: 048
  636. SULFASALAZINE [Concomitant]
     Active Substance: SULFASALAZINE
     Route: 058
  637. SULFASALAZINE [Concomitant]
     Active Substance: SULFASALAZINE
     Route: 058
  638. SULFASALAZINE [Concomitant]
     Active Substance: SULFASALAZINE
     Route: 048
  639. SULFASALAZINE [Concomitant]
     Active Substance: SULFASALAZINE
     Route: 048
  640. SULFASALAZINE [Concomitant]
     Active Substance: SULFASALAZINE
     Route: 048
  641. SULFASALAZINE [Concomitant]
     Active Substance: SULFASALAZINE
     Route: 058
  642. SULFASALAZINE [Concomitant]
     Active Substance: SULFASALAZINE
     Route: 048
  643. SULFASALAZINE [Concomitant]
     Active Substance: SULFASALAZINE
     Route: 058
  644. SULFASALAZINE [Concomitant]
     Active Substance: SULFASALAZINE
     Route: 048
  645. SULFASALAZINE [Concomitant]
     Active Substance: SULFASALAZINE
     Route: 048
  646. SULFASALAZINE [Concomitant]
     Active Substance: SULFASALAZINE
     Route: 048
  647. SULFASALAZINE [Concomitant]
     Active Substance: SULFASALAZINE
     Route: 048
  648. SULFASALAZINE [Concomitant]
     Active Substance: SULFASALAZINE
     Route: 048
  649. SULFASALAZINE [Concomitant]
     Active Substance: SULFASALAZINE
     Route: 048
  650. SULFASALAZINE [Concomitant]
     Active Substance: SULFASALAZINE
     Route: 048
  651. TOCILIZUMAB [Concomitant]
     Active Substance: TOCILIZUMAB
     Indication: Rheumatoid arthritis
     Route: 058
  652. TOCILIZUMAB [Concomitant]
     Active Substance: TOCILIZUMAB
     Route: 042
  653. TOCILIZUMAB [Concomitant]
     Active Substance: TOCILIZUMAB
  654. TOCILIZUMAB [Concomitant]
     Active Substance: TOCILIZUMAB
     Route: 058
  655. TOCILIZUMAB [Concomitant]
     Active Substance: TOCILIZUMAB
     Route: 042
  656. TOCILIZUMAB [Concomitant]
     Active Substance: TOCILIZUMAB
  657. TOCILIZUMAB [Concomitant]
     Active Substance: TOCILIZUMAB
  658. TOFACITINIB [Concomitant]
     Active Substance: TOFACITINIB
     Indication: Rheumatoid arthritis
  659. TOFACITINIB [Concomitant]
     Active Substance: TOFACITINIB
     Route: 048
  660. TOFACITINIB [Concomitant]
     Active Substance: TOFACITINIB
  661. TOFACITINIB [Concomitant]
     Active Substance: TOFACITINIB
  662. TOFACITINIB [Concomitant]
     Active Substance: TOFACITINIB
     Route: 048
  663. TOFACITINIB [Concomitant]
     Active Substance: TOFACITINIB
     Route: 048
  664. TOFACITINIB [Concomitant]
     Active Substance: TOFACITINIB
     Route: 048
  665. TOFACITINIB CITRATE [Concomitant]
     Active Substance: TOFACITINIB CITRATE
     Indication: Rheumatoid arthritis
  666. TOFACITINIB CITRATE [Concomitant]
     Active Substance: TOFACITINIB CITRATE
     Route: 048
  667. TOFACITINIB CITRATE [Concomitant]
     Active Substance: TOFACITINIB CITRATE
  668. TOFACITINIB CITRATE [Concomitant]
     Active Substance: TOFACITINIB CITRATE
  669. TOPIRAMATE [Concomitant]
     Active Substance: TOPIRAMATE
     Indication: Migraine
  670. TOPIRAMATE [Concomitant]
     Active Substance: TOPIRAMATE
     Indication: Rheumatoid arthritis
  671. TOPIRAMATE [Concomitant]
     Active Substance: TOPIRAMATE
  672. TOPIRAMATE [Concomitant]
     Active Substance: TOPIRAMATE
  673. TOPIRAMATE [Concomitant]
     Active Substance: TOPIRAMATE
  674. TOPIRAMATE [Concomitant]
     Active Substance: TOPIRAMATE
  675. TRAMADOL HYDROCHLORIDE [Concomitant]
     Active Substance: TRAMADOL HYDROCHLORIDE
     Indication: Product used for unknown indication
  676. TRAMADOL HYDROCHLORIDE [Concomitant]
     Active Substance: TRAMADOL HYDROCHLORIDE
  677. USTEKINUMAB [Concomitant]
     Active Substance: USTEKINUMAB
     Indication: Product used for unknown indication
  678. USTEKINUMAB [Concomitant]
     Active Substance: USTEKINUMAB
     Route: 058
  679. VITAMIN C [Concomitant]
     Active Substance: ASCORBIC ACID
     Indication: Product used for unknown indication
  680. VITAMIN C [Concomitant]
     Active Substance: ASCORBIC ACID
  681. VITAMIN C [Concomitant]
     Active Substance: ASCORBIC ACID
  682. VITAMIN D3 [Concomitant]
     Active Substance: CHOLECALCIFEROL
     Indication: Product used for unknown indication
  683. XELJANZ [Concomitant]
     Active Substance: TOFACITINIB CITRATE
     Indication: Rheumatoid arthritis
     Route: 048
  684. XELJANZ [Concomitant]
     Active Substance: TOFACITINIB CITRATE
  685. XELJANZ [Concomitant]
     Active Substance: TOFACITINIB CITRATE
     Route: 048
  686. XELJANZ [Concomitant]
     Active Substance: TOFACITINIB CITRATE
  687. XELJANZ [Concomitant]
     Active Substance: TOFACITINIB CITRATE
     Route: 048
  688. XELJANZ [Concomitant]
     Active Substance: TOFACITINIB CITRATE
     Route: 048
  689. XELJANZ [Concomitant]
     Active Substance: TOFACITINIB CITRATE
     Route: 048
  690. XELJANZ [Concomitant]
     Active Substance: TOFACITINIB CITRATE
     Route: 048
  691. XELJANZ [Concomitant]
     Active Substance: TOFACITINIB CITRATE
  692. XELJANZ [Concomitant]
     Active Substance: TOFACITINIB CITRATE
  693. GOLD [Concomitant]
     Active Substance: GOLD
     Indication: Product used for unknown indication
  694. GOLD [Concomitant]
     Active Substance: GOLD
  695. HAIR KERATIN AMINO ACIDS GOLD COMPLEX [Concomitant]
     Active Substance: HAIR KERATIN AMINO ACIDS GOLD COMPLEX
     Indication: Product used for unknown indication
  696. DICLOFENAC POTASSIUM [Concomitant]
     Active Substance: DICLOFENAC POTASSIUM
     Indication: Product used for unknown indication
  697. MEGLUMINE [Concomitant]
     Active Substance: MEGLUMINE
     Indication: Product used for unknown indication
     Route: 042
  698. MEGLUMINE [Concomitant]
     Active Substance: MEGLUMINE
  699. MEGLUMINE [Concomitant]
     Active Substance: MEGLUMINE
     Route: 040
  700. ALENDRONATE SODIUM [Concomitant]
     Active Substance: ALENDRONATE SODIUM
     Indication: Rheumatoid arthritis
     Route: 048
  701. ALENDRONATE SODIUM [Concomitant]
     Active Substance: ALENDRONATE SODIUM
     Route: 048
  702. ALENDRONATE SODIUM [Concomitant]
     Active Substance: ALENDRONATE SODIUM
     Route: 005
  703. ALENDRONATE SODIUM [Concomitant]
     Active Substance: ALENDRONATE SODIUM
     Route: 016
  704. DESOGESTREL AND ETHINYL ESTRADIOL [Concomitant]
     Active Substance: DESOGESTREL\ETHINYL ESTRADIOL
     Indication: Product used for unknown indication
  705. OTEZLA [Concomitant]
     Active Substance: APREMILAST
     Indication: Product used for unknown indication
  706. ALENDRONATE SODIUM\CHOLECALCIFEROL [Concomitant]
     Active Substance: ALENDRONATE SODIUM\CHOLECALCIFEROL
     Indication: Rheumatoid arthritis
     Route: 048
  707. ALENDRONATE SODIUM\CHOLECALCIFEROL [Concomitant]
     Active Substance: ALENDRONATE SODIUM\CHOLECALCIFEROL
  708. CALCIUM ASCORBATE [Concomitant]
     Active Substance: CALCIUM ASCORBATE
     Indication: Product used for unknown indication
  709. CALCIUM CARBONATE [Concomitant]
     Active Substance: CALCIUM CARBONATE
     Indication: Product used for unknown indication
  710. CALCIUM CITRATE [Concomitant]
     Active Substance: CALCIUM CITRATE
     Indication: Product used for unknown indication
  711. CALCIUM GLUBIONATE [Concomitant]
     Active Substance: CALCIUM GLUBIONATE
     Indication: Product used for unknown indication
     Route: 016
  712. CHOLECALCIFEROL [Concomitant]
     Active Substance: CHOLECALCIFEROL
     Indication: Rheumatoid arthritis
  713. CHOLECALCIFEROL [Concomitant]
     Active Substance: CHOLECALCIFEROL
     Route: 048
  714. CHLORHEXIDINE GLUCONATE\ISOPROPYL ALCOHOL [Concomitant]
     Active Substance: CHLORHEXIDINE GLUCONATE\ISOPROPYL ALCOHOL
     Indication: Product used for unknown indication
     Route: 061
  715. HYDROCORTISONE PROBUTATE [Concomitant]
     Active Substance: HYDROCORTISONE PROBUTATE
     Indication: Rheumatoid arthritis
  716. DIETARY SUPPLEMENT [Concomitant]
     Active Substance: DIETARY SUPPLEMENT
     Indication: Product used for unknown indication
  717. DICLOFENAC DIETHYLAMINE [Concomitant]
     Active Substance: DICLOFENAC DIETHYLAMINE
     Indication: Product used for unknown indication
  718. TRAMADOL HYDROCHLORIDE [Concomitant]
     Active Substance: TRAMADOL HYDROCHLORIDE
     Indication: Product used for unknown indication
  719. AZATHIOPRINE [Concomitant]
     Active Substance: AZATHIOPRINE
     Indication: Product used for unknown indication
  720. DESOGESTREL AND ETHINYL ESTRADIOL [Concomitant]
     Active Substance: DESOGESTREL\ETHINYL ESTRADIOL
     Indication: Product used for unknown indication
  721. SULFAMETHOXAZOLE\TRIMETHOPRIM [Concomitant]
     Active Substance: SULFAMETHOXAZOLE\TRIMETHOPRIM
     Indication: Product used for unknown indication
  722. CETIRIZINE [Concomitant]
     Active Substance: CETIRIZINE HYDROCHLORIDE
     Indication: Rheumatoid arthritis
     Route: 048
  723. CETIRIZINE [Concomitant]
     Active Substance: CETIRIZINE HYDROCHLORIDE
     Route: 048
  724. CETIRIZINE [Concomitant]
     Active Substance: CETIRIZINE HYDROCHLORIDE
     Route: 048
  725. CETIRIZINE [Concomitant]
     Active Substance: CETIRIZINE HYDROCHLORIDE
  726. CETIRIZINE [Concomitant]
     Active Substance: CETIRIZINE HYDROCHLORIDE
  727. CETIRIZINE [Concomitant]
     Active Substance: CETIRIZINE HYDROCHLORIDE
  728. CETIRIZINE [Concomitant]
     Active Substance: CETIRIZINE HYDROCHLORIDE
  729. CETIRIZINE [Concomitant]
     Active Substance: CETIRIZINE HYDROCHLORIDE
  730. CETIRIZINE [Concomitant]
     Active Substance: CETIRIZINE HYDROCHLORIDE
  731. RANITIDINE HYDROCHLORIDE [Concomitant]
     Active Substance: RANITIDINE HYDROCHLORIDE
     Indication: Product used for unknown indication
  732. ERGOCALCIFEROL [Concomitant]
     Active Substance: ERGOCALCIFEROL
     Indication: Product used for unknown indication
     Route: 058
  733. ERGOCALCIFEROL [Concomitant]
     Active Substance: ERGOCALCIFEROL
  734. MAGNESIUM CITRATE [Concomitant]
     Active Substance: MAGNESIUM CITRATE
     Indication: Product used for unknown indication
  735. THIAMINE HYDROCHLORIDE [Concomitant]
     Active Substance: THIAMINE HYDROCHLORIDE
     Indication: Product used for unknown indication
  736. ATOMOXETINE HYDROCHLORIDE [Concomitant]
     Active Substance: ATOMOXETINE HYDROCHLORIDE
     Indication: Migraine
  737. ATOMOXETINE HYDROCHLORIDE [Concomitant]
     Active Substance: ATOMOXETINE HYDROCHLORIDE
     Route: 005
  738. ATOMOXETINE HYDROCHLORIDE [Concomitant]
     Active Substance: ATOMOXETINE HYDROCHLORIDE
  739. ATOMOXETINE HYDROCHLORIDE [Concomitant]
     Active Substance: ATOMOXETINE HYDROCHLORIDE
     Route: 005
  740. ATOMOXETINE HYDROCHLORIDE [Concomitant]
     Active Substance: ATOMOXETINE HYDROCHLORIDE
  741. HYDROCORTISONE\NEOMYCIN SULFATE [Concomitant]
     Active Substance: HYDROCORTISONE\NEOMYCIN SULFATE
     Indication: Product used for unknown indication
  742. ISOPROPYL ALCOHOL [Concomitant]
     Active Substance: ISOPROPYL ALCOHOL
     Indication: Product used for unknown indication
  743. ISOPROPYL ALCOHOL [Concomitant]
     Active Substance: ISOPROPYL ALCOHOL
     Route: 061
  744. PERIOGARD [Concomitant]
     Active Substance: CHLORHEXIDINE GLUCONATE
     Indication: Product used for unknown indication
     Route: 061
  745. RIBOFLAVIN [Concomitant]
     Active Substance: RIBOFLAVIN
     Indication: Product used for unknown indication
  746. VITAMIN A [Concomitant]
     Active Substance: VITAMIN A
     Indication: Product used for unknown indication
  747. CALCIUM CARBONATE\CALCIUM GLUCONATE\CALCIUM LACTATE [Concomitant]
     Active Substance: CALCIUM CARBONATE\CALCIUM GLUCONATE\CALCIUM LACTATE
     Indication: Product used for unknown indication
  748. CHLORHEXIDINE GLUCONATE [Concomitant]
     Active Substance: CHLORHEXIDINE GLUCONATE
     Indication: Product used for unknown indication
  749. CHLORHEXIDINE GLUCONATE [Concomitant]
     Active Substance: CHLORHEXIDINE GLUCONATE
     Route: 061
  750. ALENDRONATE [Concomitant]
     Active Substance: ALENDRONATE SODIUM
     Indication: Rheumatoid arthritis
  751. FLUMETHASONE PIVALATE [Concomitant]
     Active Substance: FLUMETHASONE PIVALATE
     Indication: Product used for unknown indication
     Route: 003
  752. FLUMETHASONE PIVALATE [Concomitant]
     Active Substance: FLUMETHASONE PIVALATE
  753. ATIVAN [Concomitant]
     Active Substance: LORAZEPAM
     Indication: Anxiety
  754. ATIVAN [Concomitant]
     Active Substance: LORAZEPAM
  755. CALCIUM [Concomitant]
     Active Substance: CALCIUM
     Indication: Product used for unknown indication
  756. CALCIUM GLUCONATE [Concomitant]
     Active Substance: CALCIUM GLUCONATE
     Indication: Product used for unknown indication
  757. CALCIUM LACTATE [Concomitant]
     Active Substance: CALCIUM LACTATE
     Indication: Product used for unknown indication
  758. CYANOCOBALAMIN [Concomitant]
     Active Substance: CYANOCOBALAMIN
     Indication: Product used for unknown indication
  759. IRON\VITAMINS [Concomitant]
     Active Substance: IRON\VITAMINS
     Indication: Product used for unknown indication
  760. GLUCOSAMINE [Concomitant]
     Active Substance: GLUCOSAMINE
     Indication: Product used for unknown indication
  761. IBUPROFEN [Concomitant]
     Active Substance: IBUPROFEN
     Indication: Rheumatoid arthritis
  762. LANSOPRAZOLE [Concomitant]
     Active Substance: LANSOPRAZOLE
     Indication: Product used for unknown indication
  763. LISINOPRIL [Concomitant]
     Active Substance: LISINOPRIL
     Indication: Product used for unknown indication
  764. LORAZEPAM [Concomitant]
     Active Substance: LORAZEPAM
     Indication: Product used for unknown indication
  765. MAGNESIUM [Concomitant]
     Active Substance: MAGNESIUM
     Indication: Product used for unknown indication
  766. PANTOPRAZOLE [Concomitant]
     Active Substance: PANTOPRAZOLE
     Indication: Product used for unknown indication
  767. PREDNISOLONE [Concomitant]
     Active Substance: PREDNISOLONE
     Indication: Product used for unknown indication
  768. QUETIAPINE [Concomitant]
     Active Substance: QUETIAPINE
     Indication: Product used for unknown indication
  769. QUETIAPINE FUMARATE [Concomitant]
     Active Substance: QUETIAPINE FUMARATE
     Indication: Product used for unknown indication
  770. QUETIAPINE FUMARATE [Concomitant]
     Active Substance: QUETIAPINE FUMARATE
  771. RISEDRONATE SODIUM [Concomitant]
     Active Substance: RISEDRONATE SODIUM
     Indication: Product used for unknown indication
  772. RISEDRONATE SODIUM [Concomitant]
     Active Substance: RISEDRONATE SODIUM
  773. DIETARY SUPPLEMENT\HERBALS [Concomitant]
     Active Substance: DIETARY SUPPLEMENT\HERBALS
     Indication: Product used for unknown indication
     Route: 048
  774. FISH OIL [Concomitant]
     Active Substance: FISH OIL
     Indication: Product used for unknown indication
  775. VITAMIN D3 [Concomitant]
     Active Substance: CHOLECALCIFEROL
     Indication: Product used for unknown indication
  776. FLUMETHASONE PIVALATE [Concomitant]
     Active Substance: FLUMETHASONE PIVALATE
     Indication: Product used for unknown indication
     Route: 003
  777. FLUMETHASONE PIVALATE [Concomitant]
     Active Substance: FLUMETHASONE PIVALATE
  778. IODAMIDE MEGLUMINE [Concomitant]
     Active Substance: IODAMIDE MEGLUMINE
     Indication: Product used for unknown indication
  779. IODAMIDE MEGLUMINE [Concomitant]
     Active Substance: IODAMIDE MEGLUMINE
     Route: 040
  780. IODAMIDE MEGLUMINE [Concomitant]
     Active Substance: IODAMIDE MEGLUMINE
     Route: 042
  781. ZINC [Concomitant]
     Active Substance: ZINC
     Indication: Rheumatoid arthritis
  782. TOPAMAX [Concomitant]
     Active Substance: TOPIRAMATE
     Indication: Migraine
     Route: 048
  783. TOPAMAX [Concomitant]
     Active Substance: TOPIRAMATE
     Route: 048
  784. TOPAMAX [Concomitant]
     Active Substance: TOPIRAMATE
     Route: 048
  785. TOPAMAX [Concomitant]
     Active Substance: TOPIRAMATE
  786. TOPAMAX [Concomitant]
     Active Substance: TOPIRAMATE
     Route: 048
  787. TOPAMAX [Concomitant]
     Active Substance: TOPIRAMATE
  788. TOPAMAX [Concomitant]
     Active Substance: TOPIRAMATE
  789. ERENUMAB-AOOE [Concomitant]
     Active Substance: ERENUMAB-AOOE
     Indication: Migraine
  790. ERENUMAB-AOOE [Concomitant]
     Active Substance: ERENUMAB-AOOE
     Indication: Rheumatoid arthritis
  791. PANTOPRAZOLE SODIUM [Concomitant]
     Active Substance: PANTOPRAZOLE SODIUM
     Indication: Product used for unknown indication
  792. PIROXICAM [Concomitant]
     Active Substance: PIROXICAM
     Indication: Product used for unknown indication
  793. PREDNISONE [Concomitant]
     Active Substance: PREDNISONE
     Indication: Rheumatoid arthritis
     Route: 048
  794. PANTOPRAZOLE SODIUM ANHYDROUS [Concomitant]
     Active Substance: PANTOPRAZOLE SODIUM ANHYDROUS
     Indication: Product used for unknown indication
  795. PANTOPRAZOLE SODIUM ANHYDROUS [Concomitant]
     Active Substance: PANTOPRAZOLE SODIUM ANHYDROUS
  796. PANTOPRAZOLE SODIUM ANHYDROUS [Concomitant]
     Active Substance: PANTOPRAZOLE SODIUM ANHYDROUS
  797. PANTOPRAZOLE SODIUM ANHYDROUS [Concomitant]
     Active Substance: PANTOPRAZOLE SODIUM ANHYDROUS
  798. PANTOPRAZOLE SODIUM ANHYDROUS [Concomitant]
     Active Substance: PANTOPRAZOLE SODIUM ANHYDROUS
  799. PANTOPRAZOLE SODIUM ANHYDROUS [Concomitant]
     Active Substance: PANTOPRAZOLE SODIUM ANHYDROUS
  800. PANTOPRAZOLE SODIUM ANHYDROUS [Concomitant]
     Active Substance: PANTOPRAZOLE SODIUM ANHYDROUS
  801. PANTOPRAZOLE SODIUM ANHYDROUS [Concomitant]
     Active Substance: PANTOPRAZOLE SODIUM ANHYDROUS
  802. PANTOPRAZOLE SODIUM ANHYDROUS [Concomitant]
     Active Substance: PANTOPRAZOLE SODIUM ANHYDROUS
  803. CAFFEINE [Concomitant]
     Active Substance: CAFFEINE
     Indication: Product used for unknown indication
  804. CAFFEINE CITRATE [Concomitant]
     Active Substance: CAFFEINE CITRATE
     Indication: Product used for unknown indication
  805. DOCONEXENT [Concomitant]
     Active Substance: DOCONEXENT
     Indication: Product used for unknown indication
  806. ICOSAPENT [Concomitant]
     Active Substance: ICOSAPENT
     Indication: Product used for unknown indication
  807. ELBASVIR [Concomitant]
     Active Substance: ELBASVIR
     Indication: Product used for unknown indication
  808. HYRIMOZ [Concomitant]
     Active Substance: ADALIMUMAB-ADAZ
     Indication: Rheumatoid arthritis
     Route: 048
  809. ERGOCALCIFEROL\RETINOL [Concomitant]
     Active Substance: ERGOCALCIFEROL\RETINOL
     Indication: Product used for unknown indication
  810. HYDROCORTISONE ACETATE [Concomitant]
     Active Substance: HYDROCORTISONE ACETATE
     Indication: Product used for unknown indication
  811. NICOTINAMIDE [Concomitant]
     Active Substance: NIACINAMIDE
     Indication: Product used for unknown indication
  812. BETAMETHASONE [Concomitant]
     Active Substance: BETAMETHASONE
     Indication: Product used for unknown indication
  813. BETAMETHASONE [Concomitant]
     Active Substance: BETAMETHASONE
  814. BUPRENORPHINE [Concomitant]
     Active Substance: BUPRENORPHINE
     Indication: Product used for unknown indication
  815. CELECOXIB [Concomitant]
     Active Substance: CELECOXIB
     Indication: Product used for unknown indication
     Route: 048
  816. CELECOXIB [Concomitant]
     Active Substance: CELECOXIB
  817. CELECOXIB [Concomitant]
     Active Substance: CELECOXIB
     Route: 048
  818. CELECOXIB [Concomitant]
     Active Substance: CELECOXIB
  819. CYCLOBENZAPRINE [Concomitant]
     Active Substance: CYCLOBENZAPRINE
     Indication: Product used for unknown indication
     Route: 048
  820. CYCLOBENZAPRINE [Concomitant]
     Active Substance: CYCLOBENZAPRINE
  821. DICLOFENAC [Concomitant]
     Active Substance: DICLOFENAC
     Indication: Product used for unknown indication
     Route: 048
  822. DOMPERIDONE [Concomitant]
     Active Substance: DOMPERIDONE
     Indication: Product used for unknown indication
     Route: 058
  823. FINACEA [Concomitant]
     Active Substance: AZELAIC ACID
     Indication: Product used for unknown indication
     Route: 058
  824. FLUTICASONE [Concomitant]
     Active Substance: FLUTICASONE
     Indication: Product used for unknown indication
     Route: 058
  825. HYDROMORPHONE [Concomitant]
     Active Substance: HYDROMORPHONE
     Indication: Rheumatoid arthritis
  826. LAMOTRIGINE [Concomitant]
     Active Substance: LAMOTRIGINE
     Indication: Product used for unknown indication
     Route: 048
  827. LAMOTRIGINE [Concomitant]
     Active Substance: LAMOTRIGINE
     Route: 048
  828. LAMOTRIGINE [Concomitant]
     Active Substance: LAMOTRIGINE
     Route: 048
  829. LAMOTRIGINE [Concomitant]
     Active Substance: LAMOTRIGINE
  830. LAMOTRIGINE [Concomitant]
     Active Substance: LAMOTRIGINE
  831. LAMOTRIGINE [Concomitant]
     Active Substance: LAMOTRIGINE
  832. LEVOMILNACIPRAN [Concomitant]
     Active Substance: LEVOMILNACIPRAN
     Indication: Product used for unknown indication
  833. PHOSPHORUS [Concomitant]
     Active Substance: PHOSPHORUS
     Indication: Product used for unknown indication
  834. TRAZODONE [Concomitant]
     Active Substance: TRAZODONE HYDROCHLORIDE
     Indication: Product used for unknown indication
  835. TRAZODONE [Concomitant]
     Active Substance: TRAZODONE HYDROCHLORIDE
  836. TRETINOIN [Concomitant]
     Active Substance: TRETINOIN
     Indication: Product used for unknown indication
  837. TRETINOIN [Concomitant]
     Active Substance: TRETINOIN
  838. DEXTROMETHORPHAN [Concomitant]
     Active Substance: DEXTROMETHORPHAN
     Indication: Product used for unknown indication
  839. ETANERCEPT [Concomitant]
     Active Substance: ETANERCEPT
     Indication: Rheumatoid arthritis
  840. METHOTREXATE SODIUM [Concomitant]
     Active Substance: METHOTREXATE SODIUM
     Indication: Rheumatoid arthritis
     Route: 048
  841. METHOTREXATE SODIUM [Concomitant]
     Active Substance: METHOTREXATE SODIUM
  842. METHOTREXATE SODIUM [Concomitant]
     Active Substance: METHOTREXATE SODIUM
  843. METHOTREXATE SODIUM [Concomitant]
     Active Substance: METHOTREXATE SODIUM
     Route: 048
  844. FLUTICASONE FUROATE [Concomitant]
     Active Substance: FLUTICASONE FUROATE
     Indication: Product used for unknown indication
     Dosage: METERED DOSE SPRAY
  845. AZELAIC ACID [Concomitant]
     Active Substance: AZELAIC ACID
     Indication: Product used for unknown indication
     Dosage: METERED DOSE SPRAY
  846. AZELAIC ACID [Concomitant]
     Active Substance: AZELAIC ACID
     Route: 005
  847. BETAMETHASONE VALERATE [Concomitant]
     Active Substance: BETAMETHASONE VALERATE
     Indication: Product used for unknown indication
  848. BETAMETHASONE VALERATE [Concomitant]
     Active Substance: BETAMETHASONE VALERATE
  849. BOTOX [Concomitant]
     Active Substance: ONABOTULINUMTOXINA
     Indication: Migraine
     Route: 030
  850. CALCIUM PANTOTHENATE [Concomitant]
     Active Substance: CALCIUM PANTOTHENATE
     Indication: Product used for unknown indication
  851. TRICHOLINE CITRATE [Concomitant]
     Active Substance: TRICHOLINE CITRATE
     Indication: Product used for unknown indication
  852. FETZIMA [Concomitant]
     Active Substance: LEVOMILNACIPRAN HYDROCHLORIDE
     Indication: Product used for unknown indication
  853. FETZIMA [Concomitant]
     Active Substance: LEVOMILNACIPRAN HYDROCHLORIDE
  854. FLUTICASONE FUROATE [Concomitant]
     Active Substance: FLUTICASONE FUROATE
     Indication: Product used for unknown indication
  855. MILNACIPRAN HYDROCHLORIDE [Concomitant]
     Active Substance: MILNACIPRAN HYDROCHLORIDE
     Indication: Product used for unknown indication
  856. MILNACIPRAN HYDROCHLORIDE [Concomitant]
     Active Substance: MILNACIPRAN HYDROCHLORIDE
  857. PAROXETINE [Concomitant]
     Active Substance: PAROXETINE
     Indication: Product used for unknown indication
  858. PAROXETINE HYDROCHLORIDE [Concomitant]
     Active Substance: PAROXETINE HYDROCHLORIDE
     Indication: Product used for unknown indication
  859. PREDNICARBATE [Concomitant]
     Active Substance: PREDNICARBATE
     Indication: Product used for unknown indication
  860. CHLORAPREP [Concomitant]
     Active Substance: CHLORHEXIDINE GLUCONATE\ISOPROPYL ALCOHOL
     Indication: Rheumatoid arthritis
     Route: 061
  861. CHLORHEXIDINE [Concomitant]
     Active Substance: CHLORHEXIDINE
     Indication: Product used for unknown indication
     Route: 002
  862. CLIOQUINOL\FLUMETHASONE [Concomitant]
     Active Substance: CLIOQUINOL\FLUMETHASONE
     Indication: Product used for unknown indication
     Route: 058
  863. LYRICA [Concomitant]
     Active Substance: PREGABALIN
     Indication: Product used for unknown indication
  864. NEOMYCIN [Concomitant]
     Active Substance: NEOMYCIN
     Indication: Product used for unknown indication
  865. PREGABALIN [Concomitant]
     Active Substance: PREGABALIN
     Indication: Product used for unknown indication
  866. PSEUDOEPHEDRINE HYDROCHLORIDE [Concomitant]
     Active Substance: PSEUDOEPHEDRINE HYDROCHLORIDE
     Indication: Product used for unknown indication
  867. PSEUDOEPHEDRINE HYDROCHLORIDE [Concomitant]
     Active Substance: PSEUDOEPHEDRINE HYDROCHLORIDE
  868. PSEUDOEPHEDRINE HYDROCHLORIDE [Concomitant]
     Active Substance: PSEUDOEPHEDRINE HYDROCHLORIDE
  869. DIETARY SUPPLEMENT\MINERALS\VITAMINS [Concomitant]
     Active Substance: DIETARY SUPPLEMENT\MINERALS\VITAMINS
     Indication: Product used for unknown indication
  870. DIETARY SUPPLEMENT\MINERALS\VITAMINS [Concomitant]
     Active Substance: DIETARY SUPPLEMENT\MINERALS\VITAMINS
  871. BUTALBITAL AND ACETAMINOPHEN [Concomitant]
     Active Substance: ACETAMINOPHEN\BUTALBITAL
     Indication: Product used for unknown indication
     Route: 048
  872. BUTALBITAL AND ACETAMINOPHEN [Concomitant]
     Active Substance: ACETAMINOPHEN\BUTALBITAL
  873. APREPITANT [Concomitant]
     Active Substance: APREPITANT
     Indication: Product used for unknown indication
  874. OXYCODONE AND ACETAMINOPHEN [Concomitant]
     Active Substance: ACETAMINOPHEN\OXYCODONE HYDROCHLORIDE
     Indication: Product used for unknown indication
  875. OXYCODONE AND ACETAMINOPHEN [Concomitant]
     Active Substance: ACETAMINOPHEN\OXYCODONE HYDROCHLORIDE
  876. TRAMADOL HYDROCHLORIDE AND ACETAMINOPHEN [Concomitant]
     Active Substance: ACETAMINOPHEN\TRAMADOL HYDROCHLORIDE
     Indication: Product used for unknown indication
  877. RINVOQ [Concomitant]
     Active Substance: UPADACITINIB
     Indication: Product used for unknown indication
  878. MAGNESIUM HYDROXIDE [Concomitant]
     Active Substance: MAGNESIUM HYDROXIDE
     Indication: Product used for unknown indication
  879. MAGNESIUM OXIDE [Concomitant]
     Active Substance: MAGNESIUM OXIDE
     Indication: Product used for unknown indication
  880. PREPARATION H HYDROCORTISONE [Concomitant]
     Active Substance: HYDROCORTISONE
     Indication: Product used for unknown indication
  881. APREMILAST [Concomitant]
     Active Substance: APREMILAST
     Indication: Product used for unknown indication
  882. ASACOL [Concomitant]
     Active Substance: MESALAMINE
     Indication: Product used for unknown indication
  883. BORAGE OIL [Concomitant]
     Active Substance: BORAGE OIL
     Indication: Product used for unknown indication
  884. DILTIAZEM [Concomitant]
     Active Substance: DILTIAZEM
     Indication: Product used for unknown indication
  885. EMEND [Concomitant]
     Active Substance: APREPITANT
     Indication: Product used for unknown indication
  886. ENTYVIO [Concomitant]
     Active Substance: VEDOLIZUMAB
     Indication: Product used for unknown indication
  887. TETRACYCLINE HYDROCHLORIDE [Concomitant]
     Active Substance: TETRACYCLINE HYDROCHLORIDE
     Indication: Rheumatoid arthritis
  888. TYLENOL [Concomitant]
     Active Substance: ACETAMINOPHEN
     Indication: Product used for unknown indication
  889. TYLENOL WITH CODEINE [Concomitant]
     Active Substance: ACETAMINOPHEN\CODEINE PHOSPHATE
     Indication: Product used for unknown indication
  890. ZOPICLONE [Concomitant]
     Active Substance: ZOPICLONE
     Indication: Product used for unknown indication
  891. TUMS [Concomitant]
     Active Substance: CALCIUM CARBONATE
     Indication: Product used for unknown indication
  892. LEFLUNOMIDE [Concomitant]
     Active Substance: LEFLUNOMIDE
     Indication: Rheumatoid arthritis
     Route: 048
  893. LEFLUNOMIDE [Concomitant]
     Active Substance: LEFLUNOMIDE
  894. LEFLUNOMIDE [Concomitant]
     Active Substance: LEFLUNOMIDE
     Route: 048
  895. MYCOPHENOLATE MOFETIL [Concomitant]
     Active Substance: MYCOPHENOLATE MOFETIL
     Indication: Product used for unknown indication
  896. MYCOPHENOLATE MOFETIL [Concomitant]
     Active Substance: MYCOPHENOLATE MOFETIL
  897. OXYCODONE AND ACETAMINOPHEN [Concomitant]
     Active Substance: ACETAMINOPHEN\OXYCODONE HYDROCHLORIDE
     Indication: Product used for unknown indication
  898. OXYCODONE AND ACETAMINOPHEN [Concomitant]
     Active Substance: ACETAMINOPHEN\OXYCODONE HYDROCHLORIDE
  899. SECUKINUMAB [Concomitant]
     Active Substance: SECUKINUMAB
     Indication: Product used for unknown indication
     Route: 042
  900. ERENUMAB [Concomitant]
     Active Substance: ERENUMAB
     Indication: Migraine
  901. METFORMIN HYDROCHLORIDE [Concomitant]
     Active Substance: METFORMIN HYDROCHLORIDE
     Indication: Product used for unknown indication
     Route: 042
  902. METHYLPREDNISOLONE ACETATE [Concomitant]
     Active Substance: METHYLPREDNISOLONE ACETATE
     Indication: Product used for unknown indication
  903. CALCIUM\CHOLECALCIFEROL\MAGNESIUM [Concomitant]
     Active Substance: CALCIUM\CHOLECALCIFEROL\MAGNESIUM
     Indication: Product used for unknown indication
  904. CETIRIZINE HYDROCHLORIDE AND PSEUDOEPHEDRINE HYDROCHLORIDE [Concomitant]
     Active Substance: CETIRIZINE HYDROCHLORIDE\PSEUDOEPHEDRINE HYDROCHLORIDE
     Indication: Rheumatoid arthritis
  905. PYRIDOXINE HYDROCHLORIDE [Concomitant]
     Active Substance: PYRIDOXINE HYDROCHLORIDE
     Indication: Product used for unknown indication
  906. CETIRIZINE HYDROCHLORIDE [Concomitant]
     Active Substance: CETIRIZINE HYDROCHLORIDE
     Indication: Rheumatoid arthritis
  907. CETIRIZINE HYDROCHLORIDE [Concomitant]
     Active Substance: CETIRIZINE HYDROCHLORIDE
  908. CETIRIZINE HYDROCHLORIDE [Concomitant]
     Active Substance: CETIRIZINE HYDROCHLORIDE
  909. CETIRIZINE HYDROCHLORIDE [Concomitant]
     Active Substance: CETIRIZINE HYDROCHLORIDE
  910. CETIRIZINE HYDROCHLORIDE [Concomitant]
     Active Substance: CETIRIZINE HYDROCHLORIDE
  911. STRATTERA [Concomitant]
     Active Substance: ATOMOXETINE HYDROCHLORIDE
     Indication: Migraine
  912. STRATTERA [Concomitant]
     Active Substance: ATOMOXETINE HYDROCHLORIDE
  913. CHOLECALCIFEROL [Concomitant]
     Active Substance: CHOLECALCIFEROL
     Indication: Product used for unknown indication
  914. VITAMINS NOS [Concomitant]
     Active Substance: VITAMINS
     Indication: Product used for unknown indication
  915. VITAMINS NOS [Concomitant]
     Active Substance: VITAMINS
  916. VITAMINS NOS [Concomitant]
     Active Substance: VITAMINS
  917. DICLOFENAC POTASSIUM [Concomitant]
     Active Substance: DICLOFENAC POTASSIUM
     Indication: Rheumatoid arthritis
  918. NAPROSYN [Concomitant]
     Active Substance: NAPROXEN
     Indication: Rheumatoid arthritis
  919. HYDROMORPHONE HYDROCHLORIDE [Concomitant]
     Active Substance: HYDROMORPHONE HYDROCHLORIDE
     Indication: Product used for unknown indication
  920. TRIAMCINOLONE [Concomitant]
     Active Substance: TRIAMCINOLONE
     Indication: Product used for unknown indication
     Route: 048
  921. DICLOFENAC [Concomitant]
     Active Substance: DICLOFENAC
     Indication: Product used for unknown indication
  922. BUPRENORPHINE HYDROCHLORIDE [Concomitant]
     Active Substance: BUPRENORPHINE HYDROCHLORIDE
     Indication: Product used for unknown indication
  923. CYCLOBENZAPRINE HYDROCHLORIDE [Concomitant]
     Active Substance: CYCLOBENZAPRINE HYDROCHLORIDE
     Indication: Product used for unknown indication
  924. BETAMETHASONE DIPROPIONATE [Concomitant]
     Active Substance: BETAMETHASONE DIPROPIONATE
     Indication: Product used for unknown indication
  925. CODEINE [Concomitant]
     Active Substance: CODEINE
     Indication: Product used for unknown indication
  926. MENTHOL\ZINC OXIDE [Concomitant]
     Active Substance: MENTHOL\ZINC OXIDE
     Indication: Product used for unknown indication
  927. HYDROCORTISONE PROBUTATE [Concomitant]
     Active Substance: HYDROCORTISONE PROBUTATE
     Indication: Product used for unknown indication
  928. IODINE [Concomitant]
     Active Substance: IODINE
     Indication: Product used for unknown indication
  929. MEPOLIZUMAB [Concomitant]
     Active Substance: MEPOLIZUMAB
     Indication: Product used for unknown indication
  930. PLAQUENIL [Concomitant]
     Active Substance: HYDROXYCHLOROQUINE SULFATE
     Indication: Rheumatoid arthritis
     Route: 048
  931. PLAQUENIL [Concomitant]
     Active Substance: HYDROXYCHLOROQUINE SULFATE
     Route: 016
  932. PLAQUENIL [Concomitant]
     Active Substance: HYDROXYCHLOROQUINE SULFATE
     Route: 005
  933. ACETAMINOPHEN\CODEINE PHOSPHATE [Concomitant]
     Active Substance: ACETAMINOPHEN\CODEINE PHOSPHATE
     Indication: Product used for unknown indication
  934. CORTISONE (HYDROCORTISONE) [Concomitant]
     Active Substance: HYDROCORTISONE
     Indication: Rheumatoid arthritis
     Route: 061
  935. CORTISONE (HYDROCORTISONE) [Concomitant]
     Active Substance: HYDROCORTISONE
     Route: 058
  936. CORTISONE (HYDROCORTISONE) [Concomitant]
     Active Substance: HYDROCORTISONE
  937. IMMUNE GLOBULIN NOS [Concomitant]
     Active Substance: IMMUNE GLOBULIN NOS
     Indication: Product used for unknown indication
  938. RANITIDINE BISMUTH CITRATE [Concomitant]
     Active Substance: RANITIDINE BISMUTH CITRATE
     Indication: Product used for unknown indication
  939. OXYQUINOLINE SULFATE [Concomitant]
     Active Substance: OXYQUINOLINE SULFATE
     Indication: Product used for unknown indication
     Route: 048
  940. OXYQUINOLINE SULFATE [Concomitant]
     Active Substance: OXYQUINOLINE SULFATE
     Route: 048
  941. OXYQUINOLINE SULFATE [Concomitant]
     Active Substance: OXYQUINOLINE SULFATE
     Route: 048
  942. SULFATHIAZOLE [Concomitant]
     Active Substance: SULFATHIAZOLE
     Indication: Product used for unknown indication
  943. TOPICORT [Concomitant]
     Active Substance: DESOXIMETASONE
     Indication: Rheumatoid arthritis
     Route: 003
  944. TOPICORT [Concomitant]
     Active Substance: DESOXIMETASONE
     Route: 048
  945. RISEDRONIC ACID [Concomitant]
     Active Substance: RISEDRONIC ACID
     Indication: Product used for unknown indication
  946. MYCOPHENOLATE MOFETIL [Concomitant]
     Active Substance: MYCOPHENOLATE MOFETIL
     Indication: Product used for unknown indication
  947. LISINOPRIL [Concomitant]
     Active Substance: LISINOPRIL
     Indication: Product used for unknown indication
  948. LEVOCETIRIZINE HYDROCHLORIDE [Concomitant]
     Active Substance: LEVOCETIRIZINE HYDROCHLORIDE
     Indication: Product used for unknown indication
  949. CALCIUM CARBONATE\CHOLECALCIFEROL [Concomitant]
     Active Substance: CALCIUM CARBONATE\CHOLECALCIFEROL
     Indication: Rheumatoid arthritis
  950. DOXYCYCLINE [Concomitant]
     Active Substance: DOXYCYCLINE
     Indication: Product used for unknown indication
  951. DOXYCYCLINE HYCLATE [Concomitant]
     Active Substance: DOXYCYCLINE HYCLATE
     Indication: Product used for unknown indication
  952. PREGABALIN [Concomitant]
     Active Substance: PREGABALIN
     Indication: Product used for unknown indication
  953. SULFAMETHOXAZOLE [Concomitant]
     Active Substance: SULFAMETHOXAZOLE
     Indication: Product used for unknown indication
  954. ACETAMINOPHEN\PROPOXYPHENE HYDROCHLORIDE [Concomitant]
     Active Substance: ACETAMINOPHEN\PROPOXYPHENE HYDROCHLORIDE
     Indication: Product used for unknown indication
  955. ANAKINRA [Concomitant]
     Active Substance: ANAKINRA
     Indication: Rheumatoid arthritis
  956. ARTHRITIS PAIN ACETAMINOPHEN [Concomitant]
     Active Substance: ACETAMINOPHEN
     Indication: Rheumatoid arthritis
  957. ERGOCALCIFEROL;POTASSIUM FLUORIDE;RETINOL ACETATE;SODIUM ASCORBATE [Concomitant]
     Indication: Product used for unknown indication
  958. MOXIFLOXACIN HYDROCHLORIDE [Concomitant]
     Active Substance: MOXIFLOXACIN HYDROCHLORIDE
     Indication: Product used for unknown indication
  959. INOSITOL [Concomitant]
     Active Substance: INOSITOL
     Indication: Product used for unknown indication
  960. ASIAN GINSENG [Concomitant]
     Active Substance: ASIAN GINSENG
     Indication: Product used for unknown indication
  961. PREVACID [Concomitant]
     Active Substance: LANSOPRAZOLE
     Indication: Product used for unknown indication
  962. VALINE [Concomitant]
     Active Substance: VALINE
     Indication: Product used for unknown indication
  963. ZESTRIL [Concomitant]
     Active Substance: LISINOPRIL
     Indication: Product used for unknown indication
  964. DILTIAZEM HYDROCHLORIDE [Concomitant]
     Active Substance: DILTIAZEM HYDROCHLORIDE
     Indication: Product used for unknown indication
     Route: 042
  965. HYDROCORTISONE BUTYRATE [Concomitant]
     Active Substance: HYDROCORTISONE BUTYRATE
     Indication: Rheumatoid arthritis
     Route: 048
  966. HYDROCORTISONE BUTYRATE [Concomitant]
     Active Substance: HYDROCORTISONE BUTYRATE
     Route: 058
  967. HYDROCORTISONE BUTYRATE [Concomitant]
     Active Substance: HYDROCORTISONE BUTYRATE
  968. HYDROCORTISONE BUTYRATE [Concomitant]
     Active Substance: HYDROCORTISONE BUTYRATE
     Route: 050
  969. HYDROCORTISONE SODIUM SUCCINATE [Concomitant]
     Active Substance: HYDROCORTISONE SODIUM SUCCINATE
     Indication: Rheumatoid arthritis
  970. HYDROCORTISONE SODIUM SUCCINATE [Concomitant]
     Active Substance: HYDROCORTISONE SODIUM SUCCINATE
     Route: 048
  971. OXYCODONE HYDROCHLORIDE [Concomitant]
     Active Substance: OXYCODONE HYDROCHLORIDE
     Indication: Product used for unknown indication
  972. PSEUDOEPHEDRINE HYDROCHLORIDE [Concomitant]
     Active Substance: PSEUDOEPHEDRINE HYDROCHLORIDE
     Indication: Rheumatoid arthritis
  973. PSEUDOEPHEDRINE HYDROCHLORIDE [Concomitant]
     Active Substance: PSEUDOEPHEDRINE HYDROCHLORIDE
  974. DESOGESTREL [Concomitant]
     Active Substance: DESOGESTREL
     Indication: Product used for unknown indication
  975. TRAMADOL [Concomitant]
     Active Substance: TRAMADOL
     Indication: Product used for unknown indication
  976. FLONASE ALLERGY RELIEF [Concomitant]
     Active Substance: FLUTICASONE PROPIONATE
     Indication: Product used for unknown indication

REACTIONS (1)
  - Death [Fatal]
